FAERS Safety Report 22860650 (Version 20)
Quarter: 2025Q1

REPORT INFORMATION
  Report Type: Spontaneous
  Country: CA (occurrence: CA)
  Receive Date: 20230824
  Receipt Date: 20250327
  Transmission Date: 20250409
  Serious: Yes (Death, Other)
  Sender: BRISTOL-MYERS SQUIBB COMPANY
  Company Number: CA-BRISTOL-MYERS SQUIBB COMPANY-2023-118555

PATIENT
  Age: 40 Year
  Sex: Female
  Weight: 96 kg

DRUGS (859)
  1. ORENCIA [Suspect]
     Active Substance: ABATACEPT
     Indication: Rheumatoid arthritis
     Route: 042
  2. ORENCIA [Suspect]
     Active Substance: ABATACEPT
     Route: 042
  3. ORENCIA [Suspect]
     Active Substance: ABATACEPT
     Route: 042
  4. ORENCIA [Suspect]
     Active Substance: ABATACEPT
     Route: 042
  5. ORENCIA [Suspect]
     Active Substance: ABATACEPT
     Route: 042
  6. ORENCIA [Suspect]
     Active Substance: ABATACEPT
     Route: 040
  7. TRIAMCINOLONE ACETONIDE [Suspect]
     Active Substance: TRIAMCINOLONE ACETONIDE
     Indication: Rheumatoid arthritis
     Route: 014
  8. TRIAMCINOLONE ACETONIDE [Suspect]
     Active Substance: TRIAMCINOLONE ACETONIDE
  9. TRIAMCINOLONE ACETONIDE [Suspect]
     Active Substance: TRIAMCINOLONE ACETONIDE
  10. TRIAMCINOLONE ACETONIDE [Suspect]
     Active Substance: TRIAMCINOLONE ACETONIDE
     Route: 014
  11. TRIAMCINOLONE ACETONIDE [Suspect]
     Active Substance: TRIAMCINOLONE ACETONIDE
     Dosage: SUSPENSION INTRA ARTICULAR DOSAGE FORM
     Route: 014
  12. TRIAMCINOLONE ACETONIDE [Suspect]
     Active Substance: TRIAMCINOLONE ACETONIDE
     Route: 014
  13. TRIAMCINOLONE ACETONIDE [Suspect]
     Active Substance: TRIAMCINOLONE ACETONIDE
     Route: 014
  14. TRIAMCINOLONE ACETONIDE [Suspect]
     Active Substance: TRIAMCINOLONE ACETONIDE
     Dosage: SUSPENSION INTRA ARTICULAR DOSAGE FORM
     Route: 014
  15. TRIAMCINOLONE ACETONIDE [Suspect]
     Active Substance: TRIAMCINOLONE ACETONIDE
     Route: 014
  16. TRIAMCINOLONE ACETONIDE [Suspect]
     Active Substance: TRIAMCINOLONE ACETONIDE
     Dosage: SUSPENSION INTRA ARTICULAR DOSAGE FORM
     Route: 014
  17. TRIAMCINOLONE ACETONIDE [Suspect]
     Active Substance: TRIAMCINOLONE ACETONIDE
     Dosage: SUSPENSION INTRA ARTICULAR DOSAGE FORM
     Route: 014
  18. TRIAMCINOLONE ACETONIDE [Suspect]
     Active Substance: TRIAMCINOLONE ACETONIDE
     Dosage: SUSPENSION INTRA ARTICULAR DOSAGE FORM
     Route: 014
  19. TRIAMCINOLONE ACETONIDE [Suspect]
     Active Substance: TRIAMCINOLONE ACETONIDE
     Dosage: SUSPENSION INTRA ARTICULAR DOSAGE FORM
     Route: 014
  20. ORENCIA [Suspect]
     Active Substance: ABATACEPT
     Indication: Rheumatoid arthritis
     Route: 058
  21. ORENCIA [Suspect]
     Active Substance: ABATACEPT
     Route: 058
  22. ORENCIA [Suspect]
     Active Substance: ABATACEPT
     Route: 058
  23. ORENCIA [Suspect]
     Active Substance: ABATACEPT
     Route: 058
  24. ORENCIA [Suspect]
     Active Substance: ABATACEPT
     Route: 058
  25. ORENCIA [Suspect]
     Active Substance: ABATACEPT
  26. ORENCIA [Suspect]
     Active Substance: ABATACEPT
  27. ORENCIA [Suspect]
     Active Substance: ABATACEPT
  28. ORENCIA [Suspect]
     Active Substance: ABATACEPT
  29. ORENCIA [Suspect]
     Active Substance: ABATACEPT
  30. ORENCIA [Suspect]
     Active Substance: ABATACEPT
     Route: 042
  31. ORENCIA [Suspect]
     Active Substance: ABATACEPT
     Route: 058
  32. ORENCIA [Suspect]
     Active Substance: ABATACEPT
     Route: 058
  33. ORENCIA [Suspect]
     Active Substance: ABATACEPT
     Route: 058
  34. ORENCIA [Suspect]
     Active Substance: ABATACEPT
     Route: 058
  35. MAGNESIUM CARBONATE [Concomitant]
     Active Substance: MAGNESIUM CARBONATE
     Indication: Product used for unknown indication
  36. FLUTICASONE PROPIONATE [Concomitant]
     Active Substance: FLUTICASONE PROPIONATE
     Indication: Product used for unknown indication
  37. ACETAMINOPHEN [Concomitant]
     Active Substance: ACETAMINOPHEN
     Indication: Rheumatoid arthritis
  38. ACETAMINOPHEN [Concomitant]
     Active Substance: ACETAMINOPHEN
  39. ACETAMINOPHEN [Concomitant]
     Active Substance: ACETAMINOPHEN
  40. ACETAMINOPHEN [Concomitant]
     Active Substance: ACETAMINOPHEN
  41. ACETAMINOPHEN [Concomitant]
     Active Substance: ACETAMINOPHEN
  42. ACETAMINOPHEN [Concomitant]
     Active Substance: ACETAMINOPHEN
  43. ACETAMINOPHEN [Concomitant]
     Active Substance: ACETAMINOPHEN
  44. ACETAMINOPHEN [Concomitant]
     Active Substance: ACETAMINOPHEN
  45. ACETAMINOPHEN [Concomitant]
     Active Substance: ACETAMINOPHEN
  46. ACETAMINOPHEN [Concomitant]
     Active Substance: ACETAMINOPHEN
  47. ACETAMINOPHEN AND CODEINE [Concomitant]
     Active Substance: ACETAMINOPHEN\CODEINE PHOSPHATE
     Indication: Product used for unknown indication
  48. ACTEMRA [Concomitant]
     Active Substance: TOCILIZUMAB
     Indication: Rheumatoid arthritis
     Route: 058
  49. ACTEMRA [Concomitant]
     Active Substance: TOCILIZUMAB
     Route: 042
  50. ACTEMRA [Concomitant]
     Active Substance: TOCILIZUMAB
     Route: 042
  51. ACTEMRA [Concomitant]
     Active Substance: TOCILIZUMAB
     Route: 042
  52. ACTEMRA [Concomitant]
     Active Substance: TOCILIZUMAB
     Route: 042
  53. ACTEMRA [Concomitant]
     Active Substance: TOCILIZUMAB
  54. ACTEMRA [Concomitant]
     Active Substance: TOCILIZUMAB
     Route: 042
  55. ACTEMRA [Concomitant]
     Active Substance: TOCILIZUMAB
     Route: 042
  56. ACTEMRA [Concomitant]
     Active Substance: TOCILIZUMAB
     Route: 058
  57. ACTEMRA [Concomitant]
     Active Substance: TOCILIZUMAB
     Route: 058
  58. ACTEMRA [Concomitant]
     Active Substance: TOCILIZUMAB
     Route: 058
  59. ACTEMRA [Concomitant]
     Active Substance: TOCILIZUMAB
     Route: 058
  60. ACTEMRA [Concomitant]
     Active Substance: TOCILIZUMAB
  61. ACTEMRA [Concomitant]
     Active Substance: TOCILIZUMAB
  62. ACTEMRA [Concomitant]
     Active Substance: TOCILIZUMAB
  63. ACTEMRA [Concomitant]
     Active Substance: TOCILIZUMAB
     Route: 042
  64. ACTEMRA [Concomitant]
     Active Substance: TOCILIZUMAB
     Route: 061
  65. ACTEMRA [Concomitant]
     Active Substance: TOCILIZUMAB
     Route: 058
  66. ACTEMRA [Concomitant]
     Active Substance: TOCILIZUMAB
     Route: 042
  67. ACTEMRA [Concomitant]
     Active Substance: TOCILIZUMAB
     Route: 017
  68. ACTEMRA [Concomitant]
     Active Substance: TOCILIZUMAB
     Route: 058
  69. ACTEMRA [Concomitant]
     Active Substance: TOCILIZUMAB
     Route: 042
  70. ACTEMRA [Concomitant]
     Active Substance: TOCILIZUMAB
     Route: 058
  71. ACTEMRA [Concomitant]
     Active Substance: TOCILIZUMAB
     Route: 058
  72. ACTEMRA [Concomitant]
     Active Substance: TOCILIZUMAB
     Route: 061
  73. ACTEMRA [Concomitant]
     Active Substance: TOCILIZUMAB
  74. ACTEMRA [Concomitant]
     Active Substance: TOCILIZUMAB
     Route: 058
  75. ACTEMRA [Concomitant]
     Active Substance: TOCILIZUMAB
     Route: 042
  76. ACTEMRA [Concomitant]
     Active Substance: TOCILIZUMAB
     Route: 058
  77. ACTEMRA [Concomitant]
     Active Substance: TOCILIZUMAB
     Route: 058
  78. ACTEMRA [Concomitant]
     Active Substance: TOCILIZUMAB
     Route: 058
  79. ACTEMRA [Concomitant]
     Active Substance: TOCILIZUMAB
  80. ACTEMRA [Concomitant]
     Active Substance: TOCILIZUMAB
     Route: 058
  81. ACTEMRA [Concomitant]
     Active Substance: TOCILIZUMAB
  82. ACTEMRA [Concomitant]
     Active Substance: TOCILIZUMAB
     Route: 042
  83. ACTEMRA [Concomitant]
     Active Substance: TOCILIZUMAB
     Route: 042
  84. ADALIMUMAB [Concomitant]
     Active Substance: ADALIMUMAB
     Indication: Rheumatoid arthritis
     Dosage: SOLUTION SUBCUTANEOUS
     Route: 058
  85. ADALIMUMAB [Concomitant]
     Active Substance: ADALIMUMAB
     Route: 058
  86. ADALIMUMAB [Concomitant]
     Active Substance: ADALIMUMAB
  87. ADALIMUMAB [Concomitant]
     Active Substance: ADALIMUMAB
     Route: 058
  88. AIMOVIG [Concomitant]
     Active Substance: ERENUMAB-AOOE
     Indication: Migraine
  89. AIMOVIG [Concomitant]
     Active Substance: ERENUMAB-AOOE
     Indication: Rheumatoid arthritis
  90. ALENDRONIC ACID [Concomitant]
     Active Substance: ALENDRONIC ACID
     Indication: Rheumatoid arthritis
  91. ALENDRONIC ACID [Concomitant]
     Active Substance: ALENDRONIC ACID
     Route: 048
  92. ALENDRONIC ACID [Concomitant]
     Active Substance: ALENDRONIC ACID
  93. LEFLUNOMIDE [Concomitant]
     Active Substance: LEFLUNOMIDE
     Indication: Rheumatoid arthritis
     Route: 048
  94. LEFLUNOMIDE [Concomitant]
     Active Substance: LEFLUNOMIDE
  95. LEFLUNOMIDE [Concomitant]
     Active Substance: LEFLUNOMIDE
  96. LEFLUNOMIDE [Concomitant]
     Active Substance: LEFLUNOMIDE
  97. LEFLUNOMIDE [Concomitant]
     Active Substance: LEFLUNOMIDE
     Route: 048
  98. LEFLUNOMIDE [Concomitant]
     Active Substance: LEFLUNOMIDE
  99. PREDNISONE [Concomitant]
     Active Substance: PREDNISONE
     Indication: Rheumatoid arthritis
     Route: 048
  100. PREDNISONE [Concomitant]
     Active Substance: PREDNISONE
  101. PREDNISONE [Concomitant]
     Active Substance: PREDNISONE
     Route: 048
  102. PREDNISONE [Concomitant]
     Active Substance: PREDNISONE
  103. PREDNISONE [Concomitant]
     Active Substance: PREDNISONE
     Route: 048
  104. PREDNISONE [Concomitant]
     Active Substance: PREDNISONE
     Route: 048
  105. PREDNISONE [Concomitant]
     Active Substance: PREDNISONE
  106. PREDNISONE [Concomitant]
     Active Substance: PREDNISONE
     Route: 048
  107. PREDNISONE [Concomitant]
     Active Substance: PREDNISONE
  108. PREDNISONE [Concomitant]
     Active Substance: PREDNISONE
  109. PREDNISONE [Concomitant]
     Active Substance: PREDNISONE
     Route: 048
  110. PREDNISONE [Concomitant]
     Active Substance: PREDNISONE
  111. PREDNISONE [Concomitant]
     Active Substance: PREDNISONE
     Route: 048
  112. PREDNISONE [Concomitant]
     Active Substance: PREDNISONE
     Route: 048
  113. PREDNISONE [Concomitant]
     Active Substance: PREDNISONE
  114. PREDNISONE [Concomitant]
     Active Substance: PREDNISONE
     Route: 048
  115. PREDNISONE [Concomitant]
     Active Substance: PREDNISONE
     Route: 048
  116. PREDNISONE [Concomitant]
     Active Substance: PREDNISONE
  117. PREDNISONE [Concomitant]
     Active Substance: PREDNISONE
     Route: 048
  118. APREMILAST [Concomitant]
     Active Substance: APREMILAST
     Indication: Rheumatoid arthritis
  119. APREMILAST [Concomitant]
     Active Substance: APREMILAST
  120. APREMILAST [Concomitant]
     Active Substance: APREMILAST
  121. APREMILAST [Concomitant]
     Active Substance: APREMILAST
  122. ARAVA [Concomitant]
     Active Substance: LEFLUNOMIDE
     Indication: Rheumatoid arthritis
     Route: 048
  123. ARAVA [Concomitant]
     Active Substance: LEFLUNOMIDE
     Route: 048
  124. ARAVA [Concomitant]
     Active Substance: LEFLUNOMIDE
  125. ARAVA [Concomitant]
     Active Substance: LEFLUNOMIDE
     Route: 048
  126. ARAVA [Concomitant]
     Active Substance: LEFLUNOMIDE
     Route: 048
  127. ARAVA [Concomitant]
     Active Substance: LEFLUNOMIDE
     Route: 048
  128. ARAVA [Concomitant]
     Active Substance: LEFLUNOMIDE
  129. ARAVA [Concomitant]
     Active Substance: LEFLUNOMIDE
     Route: 005
  130. ATOMOXETINE [Concomitant]
     Active Substance: ATOMOXETINE
     Indication: Migraine
  131. ATOMOXETINE [Concomitant]
     Active Substance: ATOMOXETINE
  132. ATOMOXETINE [Concomitant]
     Active Substance: ATOMOXETINE
  133. ATOMOXETINE [Concomitant]
     Active Substance: ATOMOXETINE
  134. ATOMOXETINE [Concomitant]
     Active Substance: ATOMOXETINE
  135. AZATHIOPRINE SODIUM [Concomitant]
     Active Substance: AZATHIOPRINE SODIUM
     Indication: Product used for unknown indication
  136. AZATHIOPRINE SODIUM [Concomitant]
     Active Substance: AZATHIOPRINE SODIUM
  137. BERINERT [Concomitant]
     Active Substance: HUMAN C1-ESTERASE INHIBITOR
     Indication: Product used for unknown indication
  138. BERINERT [Concomitant]
     Active Substance: HUMAN C1-ESTERASE INHIBITOR
  139. BOTULINUM TOXIN TYPE A [Concomitant]
     Active Substance: BOTULINUM TOXIN TYPE A
     Indication: Product used for unknown indication
     Route: 030
  140. BOTULINUM TOXIN TYPE A [Concomitant]
     Active Substance: BOTULINUM TOXIN TYPE A
     Dosage: POWDER FOR SOLUTION
  141. BUTRANS [Concomitant]
     Active Substance: BUPRENORPHINE
     Indication: Product used for unknown indication
  142. BUTRANS [Concomitant]
     Active Substance: BUPRENORPHINE
  143. CANDESARTAN [Concomitant]
     Active Substance: CANDESARTAN
     Indication: Migraine
     Route: 048
  144. CANDESARTAN [Concomitant]
     Active Substance: CANDESARTAN
     Indication: Rheumatoid arthritis
     Route: 048
  145. CANDESARTAN [Concomitant]
     Active Substance: CANDESARTAN
  146. CELEBREX [Concomitant]
     Active Substance: CELECOXIB
     Indication: Rheumatoid arthritis
     Route: 048
  147. CELEBREX [Concomitant]
     Active Substance: CELECOXIB
  148. CERTOLIZUMAB PEGOL [Concomitant]
     Active Substance: CERTOLIZUMAB PEGOL
     Indication: Product used for unknown indication
     Route: 058
  149. CERTOLIZUMAB PEGOL [Concomitant]
     Active Substance: CERTOLIZUMAB PEGOL
     Route: 058
  150. CERTOLIZUMAB PEGOL [Concomitant]
     Active Substance: CERTOLIZUMAB PEGOL
  151. CERTOLIZUMAB PEGOL [Concomitant]
     Active Substance: CERTOLIZUMAB PEGOL
     Route: 016
  152. CERTOLIZUMAB PEGOL [Concomitant]
     Active Substance: CERTOLIZUMAB PEGOL
     Route: 058
  153. CERTOLIZUMAB PEGOL [Concomitant]
     Active Substance: CERTOLIZUMAB PEGOL
     Route: 058
  154. CETIRIZINE HYDROCHLORIDE [Concomitant]
     Active Substance: CETIRIZINE HYDROCHLORIDE
     Indication: Rheumatoid arthritis
  155. CETIRIZINE HYDROCHLORIDE [Concomitant]
     Active Substance: CETIRIZINE HYDROCHLORIDE
  156. CETIRIZINE HYDROCHLORIDE [Concomitant]
     Active Substance: CETIRIZINE HYDROCHLORIDE
     Route: 048
  157. CETIRIZINE HYDROCHLORIDE [Concomitant]
     Active Substance: CETIRIZINE HYDROCHLORIDE
     Route: 048
  158. CETIRIZINE HYDROCHLORIDE [Concomitant]
     Active Substance: CETIRIZINE HYDROCHLORIDE
  159. CETIRIZINE HYDROCHLORIDE [Concomitant]
     Active Substance: CETIRIZINE HYDROCHLORIDE
  160. CETIRIZINE HYDROCHLORIDE [Concomitant]
     Active Substance: CETIRIZINE HYDROCHLORIDE
  161. CETIRIZINE HYDROCHLORIDE [Concomitant]
     Active Substance: CETIRIZINE HYDROCHLORIDE
     Route: 048
  162. CETIRIZINE HYDROCHLORIDE [Concomitant]
     Active Substance: CETIRIZINE HYDROCHLORIDE
  163. CETIRIZINE HYDROCHLORIDE [Concomitant]
     Active Substance: CETIRIZINE HYDROCHLORIDE
     Route: 048
  164. CETIRIZINE HYDROCHLORIDE [Concomitant]
     Active Substance: CETIRIZINE HYDROCHLORIDE
  165. CETIRIZINE HYDROCHLORIDE [Concomitant]
     Active Substance: CETIRIZINE HYDROCHLORIDE
  166. CETIRIZINE HYDROCHLORIDE [Concomitant]
     Active Substance: CETIRIZINE HYDROCHLORIDE
  167. CETIRIZINE HYDROCHLORIDE [Concomitant]
     Active Substance: CETIRIZINE HYDROCHLORIDE
  168. CETIRIZINE HYDROCHLORIDE [Concomitant]
     Active Substance: CETIRIZINE HYDROCHLORIDE
     Route: 048
  169. CETIRIZINE HYDROCHLORIDE [Concomitant]
     Active Substance: CETIRIZINE HYDROCHLORIDE
     Route: 048
  170. CETIRIZINE HYDROCHLORIDE [Concomitant]
     Active Substance: CETIRIZINE HYDROCHLORIDE
     Route: 048
  171. CETIRIZINE HYDROCHLORIDE [Concomitant]
     Active Substance: CETIRIZINE HYDROCHLORIDE
  172. CETIRIZINE HYDROCHLORIDE [Concomitant]
     Active Substance: CETIRIZINE HYDROCHLORIDE
     Route: 048
  173. CETIRIZINE HYDROCHLORIDE [Concomitant]
     Active Substance: CETIRIZINE HYDROCHLORIDE
  174. CETIRIZINE HYDROCHLORIDE [Concomitant]
     Active Substance: CETIRIZINE HYDROCHLORIDE
  175. CETIRIZINE HYDROCHLORIDE [Concomitant]
     Active Substance: CETIRIZINE HYDROCHLORIDE
  176. CETIRIZINE HYDROCHLORIDE [Concomitant]
     Active Substance: CETIRIZINE HYDROCHLORIDE
  177. CETIRIZINE HYDROCHLORIDE [Concomitant]
     Active Substance: CETIRIZINE HYDROCHLORIDE
     Route: 048
  178. CETIRIZINE HYDROCHLORIDE [Concomitant]
     Active Substance: CETIRIZINE HYDROCHLORIDE
     Route: 048
  179. CETIRIZINE HYDROCHLORIDE [Concomitant]
     Active Substance: CETIRIZINE HYDROCHLORIDE
     Route: 048
  180. CETIRIZINE HYDROCHLORIDE [Concomitant]
     Active Substance: CETIRIZINE HYDROCHLORIDE
  181. CETIRIZINE HYDROCHLORIDE [Concomitant]
     Active Substance: CETIRIZINE HYDROCHLORIDE
     Route: 048
  182. CETIRIZINE HYDROCHLORIDE [Concomitant]
     Active Substance: CETIRIZINE HYDROCHLORIDE
     Route: 048
  183. CETIRIZINE HYDROCHLORIDE [Concomitant]
     Active Substance: CETIRIZINE HYDROCHLORIDE
  184. CETIRIZINE HYDROCHLORIDE [Concomitant]
     Active Substance: CETIRIZINE HYDROCHLORIDE
  185. CETIRIZINE HYDROCHLORIDE [Concomitant]
     Active Substance: CETIRIZINE HYDROCHLORIDE
  186. CETIRIZINE HYDROCHLORIDE [Concomitant]
     Active Substance: CETIRIZINE HYDROCHLORIDE
  187. CETIRIZINE HYDROCHLORIDE [Concomitant]
     Active Substance: CETIRIZINE HYDROCHLORIDE
     Route: 048
  188. CETIRIZINE HYDROCHLORIDE [Concomitant]
     Active Substance: CETIRIZINE HYDROCHLORIDE
  189. CETIRIZINE HYDROCHLORIDE [Concomitant]
     Active Substance: CETIRIZINE HYDROCHLORIDE
  190. CETIRIZINE HYDROCHLORIDE [Concomitant]
     Active Substance: CETIRIZINE HYDROCHLORIDE
  191. CETIRIZINE HYDROCHLORIDE [Concomitant]
     Active Substance: CETIRIZINE HYDROCHLORIDE
  192. CETIRIZINE HYDROCHLORIDE [Concomitant]
     Active Substance: CETIRIZINE HYDROCHLORIDE
     Route: 005
  193. CETIRIZINE HYDROCHLORIDE [Concomitant]
     Active Substance: CETIRIZINE HYDROCHLORIDE
  194. CIMZIA [Concomitant]
     Active Substance: CERTOLIZUMAB PEGOL
     Indication: Rheumatoid arthritis
     Route: 058
  195. CIMZIA [Concomitant]
     Active Substance: CERTOLIZUMAB PEGOL
     Indication: Psoriasis
     Route: 058
  196. CIMZIA [Concomitant]
     Active Substance: CERTOLIZUMAB PEGOL
     Route: 058
  197. CIMZIA [Concomitant]
     Active Substance: CERTOLIZUMAB PEGOL
  198. CIMZIA [Concomitant]
     Active Substance: CERTOLIZUMAB PEGOL
     Route: 058
  199. CIMZIA [Concomitant]
     Active Substance: CERTOLIZUMAB PEGOL
  200. CIMZIA [Concomitant]
     Active Substance: CERTOLIZUMAB PEGOL
  201. CIMZIA [Concomitant]
     Active Substance: CERTOLIZUMAB PEGOL
  202. CIMZIA [Concomitant]
     Active Substance: CERTOLIZUMAB PEGOL
  203. CIMZIA [Concomitant]
     Active Substance: CERTOLIZUMAB PEGOL
     Route: 058
  204. CIMZIA [Concomitant]
     Active Substance: CERTOLIZUMAB PEGOL
     Route: 005
  205. CIMZIA [Concomitant]
     Active Substance: CERTOLIZUMAB PEGOL
     Route: 058
  206. CIMZIA [Concomitant]
     Active Substance: CERTOLIZUMAB PEGOL
     Route: 058
  207. CORTISONE [Concomitant]
     Active Substance: CORTISONE
     Indication: Rheumatoid arthritis
     Route: 058
  208. CORTISONE ACETATE [Concomitant]
     Active Substance: CORTISONE ACETATE
     Indication: Rheumatoid arthritis
     Route: 048
  209. CORTISONE ACETATE [Concomitant]
     Active Substance: CORTISONE ACETATE
     Route: 061
  210. CORTISONE ACETATE [Concomitant]
     Active Substance: CORTISONE ACETATE
  211. CORTISONE ACETATE [Concomitant]
     Active Substance: CORTISONE ACETATE
     Route: 061
  212. CORTISONE ACETATE [Concomitant]
     Active Substance: CORTISONE ACETATE
     Route: 048
  213. CORTISONE ACETATE [Concomitant]
     Active Substance: CORTISONE ACETATE
  214. CORTISONE ACETATE [Concomitant]
     Active Substance: CORTISONE ACETATE
     Route: 048
  215. CORTISONE ACETATE [Concomitant]
     Active Substance: CORTISONE ACETATE
  216. CORTISONE ACETATE [Concomitant]
     Active Substance: CORTISONE ACETATE
     Route: 061
  217. COSENTYX [Concomitant]
     Active Substance: SECUKINUMAB
     Indication: Psoriatic arthropathy
  218. COSENTYX [Concomitant]
     Active Substance: SECUKINUMAB
     Indication: Rheumatoid arthritis
  219. COSENTYX [Concomitant]
     Active Substance: SECUKINUMAB
  220. COSENTYX [Concomitant]
     Active Substance: SECUKINUMAB
     Route: 005
  221. DESOXIMETASONE [Concomitant]
     Active Substance: DESOXIMETASONE
     Indication: Rheumatoid arthritis
     Route: 058
  222. DESOXIMETASONE [Concomitant]
     Active Substance: DESOXIMETASONE
     Route: 048
  223. DESOXIMETASONE [Concomitant]
     Active Substance: DESOXIMETASONE
     Route: 048
  224. DESOXIMETASONE [Concomitant]
     Active Substance: DESOXIMETASONE
     Route: 003
  225. DESOXIMETASONE [Concomitant]
     Active Substance: DESOXIMETASONE
     Route: 058
  226. DESOXIMETASONE [Concomitant]
     Active Substance: DESOXIMETASONE
     Route: 048
  227. DESOXIMETASONE [Concomitant]
     Active Substance: DESOXIMETASONE
     Route: 048
  228. DESOXIMETASONE [Concomitant]
     Active Substance: DESOXIMETASONE
     Route: 003
  229. DESOXIMETASONE [Concomitant]
     Active Substance: DESOXIMETASONE
     Route: 058
  230. DESOXIMETASONE [Concomitant]
     Active Substance: DESOXIMETASONE
     Route: 048
  231. DESOXIMETASONE [Concomitant]
     Active Substance: DESOXIMETASONE
     Route: 048
  232. DESOXIMETASONE [Concomitant]
     Active Substance: DESOXIMETASONE
     Route: 058
  233. DESOXIMETASONE [Concomitant]
     Active Substance: DESOXIMETASONE
     Route: 058
  234. DESOXIMETASONE [Concomitant]
     Active Substance: DESOXIMETASONE
     Route: 048
  235. DESOXIMETASONE [Concomitant]
     Active Substance: DESOXIMETASONE
     Route: 003
  236. DESOXIMETASONE [Concomitant]
     Active Substance: DESOXIMETASONE
     Route: 048
  237. DESOXIMETASONE [Concomitant]
     Active Substance: DESOXIMETASONE
     Route: 058
  238. DESOXIMETASONE [Concomitant]
     Active Substance: DESOXIMETASONE
  239. DESOXIMETASONE [Concomitant]
     Active Substance: DESOXIMETASONE
     Route: 058
  240. DESOXIMETASONE [Concomitant]
     Active Substance: DESOXIMETASONE
     Route: 048
  241. DESOXIMETASONE [Concomitant]
     Active Substance: DESOXIMETASONE
     Route: 048
  242. DICLOFENAC DIETHYLAMINE [Concomitant]
     Active Substance: DICLOFENAC DIETHYLAMINE
     Indication: Product used for unknown indication
  243. DICLOFENAC DIETHYLAMINE [Concomitant]
     Active Substance: DICLOFENAC DIETHYLAMINE
  244. DICLOFENAC SODIUM [Concomitant]
     Active Substance: DICLOFENAC SODIUM
     Indication: Product used for unknown indication
     Route: 058
  245. DICLOFENAC SODIUM [Concomitant]
     Active Substance: DICLOFENAC SODIUM
  246. DICLOFENAC SODIUM [Concomitant]
     Active Substance: DICLOFENAC SODIUM
  247. DOMPERIDONE MALEATE [Concomitant]
     Active Substance: DOMPERIDONE MALEATE
     Indication: Product used for unknown indication
  248. DOMPERIDONE MALEATE [Concomitant]
     Active Substance: DOMPERIDONE MALEATE
  249. DOMPERIDONE MALEATE [Concomitant]
     Active Substance: DOMPERIDONE MALEATE
  250. ENBREL [Concomitant]
     Active Substance: ETANERCEPT
     Indication: Rheumatoid arthritis
     Route: 058
  251. ENBREL [Concomitant]
     Active Substance: ETANERCEPT
  252. ENBREL [Concomitant]
     Active Substance: ETANERCEPT
     Route: 058
  253. ENBREL [Concomitant]
     Active Substance: ETANERCEPT
     Route: 058
  254. ENBREL [Concomitant]
     Active Substance: ETANERCEPT
     Route: 058
  255. ENBREL [Concomitant]
     Active Substance: ETANERCEPT
  256. ENBREL [Concomitant]
     Active Substance: ETANERCEPT
     Route: 058
  257. ENBREL [Concomitant]
     Active Substance: ETANERCEPT
  258. ENBREL [Concomitant]
     Active Substance: ETANERCEPT
     Route: 058
  259. ENBREL [Concomitant]
     Active Substance: ETANERCEPT
  260. ENBREL [Concomitant]
     Active Substance: ETANERCEPT
  261. ENBREL [Concomitant]
     Active Substance: ETANERCEPT
     Route: 058
  262. ENBREL [Concomitant]
     Active Substance: ETANERCEPT
     Route: 058
  263. ENBREL [Concomitant]
     Active Substance: ETANERCEPT
     Route: 058
  264. ENBREL [Concomitant]
     Active Substance: ETANERCEPT
     Route: 058
  265. ERELZI [Concomitant]
     Active Substance: ETANERCEPT-SZZS
     Indication: Rheumatoid arthritis
     Route: 058
  266. ERELZI [Concomitant]
     Active Substance: ETANERCEPT-SZZS
     Route: 058
  267. FLUMETHASONE [Concomitant]
     Active Substance: FLUMETHASONE
     Indication: Product used for unknown indication
  268. FLUMETHASONE [Concomitant]
     Active Substance: FLUMETHASONE
  269. FLUMETHASONE PIVALATE [Concomitant]
     Active Substance: FLUMETHASONE PIVALATE
     Indication: Product used for unknown indication
     Route: 003
  270. FLUMETHASONE PIVALATE [Concomitant]
     Active Substance: FLUMETHASONE PIVALATE
  271. FLUMETHASONE PIVALATE [Concomitant]
     Active Substance: FLUMETHASONE PIVALATE
     Route: 058
  272. FLUMETHASONE PIVALATE [Concomitant]
     Active Substance: FLUMETHASONE PIVALATE
  273. FLUMETHASONE PIVALATE [Concomitant]
     Active Substance: FLUMETHASONE PIVALATE
     Route: 048
  274. FOLIC ACID [Concomitant]
     Active Substance: FOLIC ACID
     Indication: Rheumatoid arthritis
     Route: 048
  275. FOLIC ACID [Concomitant]
     Active Substance: FOLIC ACID
     Route: 048
  276. FOLIC ACID [Concomitant]
     Active Substance: FOLIC ACID
     Route: 048
  277. FOLIC ACID [Concomitant]
     Active Substance: FOLIC ACID
     Route: 048
  278. FOLIC ACID [Concomitant]
     Active Substance: FOLIC ACID
     Route: 048
  279. FOLIC ACID [Concomitant]
     Active Substance: FOLIC ACID
     Route: 058
  280. FOLIC ACID [Concomitant]
     Active Substance: FOLIC ACID
     Route: 058
  281. FOLIC ACID [Concomitant]
     Active Substance: FOLIC ACID
     Route: 048
  282. FOLIC ACID [Concomitant]
     Active Substance: FOLIC ACID
  283. FOLIC ACID [Concomitant]
     Active Substance: FOLIC ACID
  284. FOLIC ACID [Concomitant]
     Active Substance: FOLIC ACID
     Route: 048
  285. FOLIC ACID [Concomitant]
     Active Substance: FOLIC ACID
     Route: 048
  286. FOLIC ACID [Concomitant]
     Active Substance: FOLIC ACID
  287. FOLIC ACID [Concomitant]
     Active Substance: FOLIC ACID
  288. FOLIC ACID [Concomitant]
     Active Substance: FOLIC ACID
  289. FOLIC ACID [Concomitant]
     Active Substance: FOLIC ACID
  290. FOLIC ACID [Concomitant]
     Active Substance: FOLIC ACID
  291. FOLIC ACID [Concomitant]
     Active Substance: FOLIC ACID
     Route: 048
  292. FOLIC ACID [Concomitant]
     Active Substance: FOLIC ACID
  293. FOLIC ACID [Concomitant]
     Active Substance: FOLIC ACID
     Route: 058
  294. FOLIC ACID [Concomitant]
     Active Substance: FOLIC ACID
     Route: 048
  295. FOLIC ACID [Concomitant]
     Active Substance: FOLIC ACID
  296. FOLIC ACID [Concomitant]
     Active Substance: FOLIC ACID
  297. FOSAMAX [Concomitant]
     Active Substance: ALENDRONATE SODIUM
     Indication: Rheumatoid arthritis
     Route: 048
  298. FOSAMAX [Concomitant]
     Active Substance: ALENDRONATE SODIUM
     Route: 058
  299. FOSAMAX [Concomitant]
     Active Substance: ALENDRONATE SODIUM
     Route: 016
  300. FOSAMAX [Concomitant]
     Active Substance: ALENDRONATE SODIUM
     Route: 005
  301. FOSAMAX [Concomitant]
     Active Substance: ALENDRONATE SODIUM
     Route: 048
  302. FOSAMAX [Concomitant]
     Active Substance: ALENDRONATE SODIUM
     Route: 058
  303. FOSAMAX [Concomitant]
     Active Substance: ALENDRONATE SODIUM
  304. FOSAMAX [Concomitant]
     Active Substance: ALENDRONATE SODIUM
     Route: 016
  305. GOLD SODIUM THIOMALATE [Concomitant]
     Active Substance: GOLD SODIUM THIOMALATE
     Indication: Product used for unknown indication
     Route: 030
  306. GOLD SODIUM THIOMALATE [Concomitant]
     Active Substance: GOLD SODIUM THIOMALATE
  307. GOLIMUMAB [Concomitant]
     Active Substance: GOLIMUMAB
     Indication: Rheumatoid arthritis
  308. GOLIMUMAB [Concomitant]
     Active Substance: GOLIMUMAB
     Indication: Prostatic specific antigen
     Route: 058
  309. GOLIMUMAB [Concomitant]
     Active Substance: GOLIMUMAB
  310. GOLIMUMAB [Concomitant]
     Active Substance: GOLIMUMAB
  311. GOLIMUMAB [Concomitant]
     Active Substance: GOLIMUMAB
  312. GOLIMUMAB [Concomitant]
     Active Substance: GOLIMUMAB
     Route: 058
  313. HUMIRA [Concomitant]
     Active Substance: ADALIMUMAB
     Indication: Rheumatoid arthritis
     Route: 057
  314. HUMIRA [Concomitant]
     Active Substance: ADALIMUMAB
     Route: 058
  315. HUMIRA [Concomitant]
     Active Substance: ADALIMUMAB
     Route: 058
  316. HUMIRA [Concomitant]
     Active Substance: ADALIMUMAB
     Route: 057
  317. HUMIRA [Concomitant]
     Active Substance: ADALIMUMAB
     Route: 058
  318. HUMIRA [Concomitant]
     Active Substance: ADALIMUMAB
     Route: 057
  319. HUMIRA [Concomitant]
     Active Substance: ADALIMUMAB
     Route: 058
  320. HUMIRA [Concomitant]
     Active Substance: ADALIMUMAB
  321. HUMIRA [Concomitant]
     Active Substance: ADALIMUMAB
     Route: 058
  322. HUMIRA [Concomitant]
     Active Substance: ADALIMUMAB
     Route: 058
  323. HYDROCORTISONE [Concomitant]
     Active Substance: HYDROCORTISONE
     Indication: Rheumatoid arthritis
     Route: 061
  324. HYDROCORTISONE [Concomitant]
     Active Substance: HYDROCORTISONE
     Route: 003
  325. HYDROCORTISONE [Concomitant]
     Active Substance: HYDROCORTISONE
     Route: 058
  326. HYDROXYCHLOROQUINE [Concomitant]
     Active Substance: HYDROXYCHLOROQUINE
     Indication: Rheumatoid arthritis
  327. HYDROXYCHLOROQUINE [Concomitant]
     Active Substance: HYDROXYCHLOROQUINE
     Route: 048
  328. HYDROXYCHLOROQUINE [Concomitant]
     Active Substance: HYDROXYCHLOROQUINE
  329. HYDROXYCHLOROQUINE [Concomitant]
     Active Substance: HYDROXYCHLOROQUINE
     Route: 058
  330. HYDROXYCHLOROQUINE [Concomitant]
     Active Substance: HYDROXYCHLOROQUINE
  331. HYDROXYCHLOROQUINE [Concomitant]
     Active Substance: HYDROXYCHLOROQUINE
     Route: 048
  332. HYDROXYCHLOROQUINE [Concomitant]
     Active Substance: HYDROXYCHLOROQUINE
     Route: 048
  333. HYDROXYCHLOROQUINE [Concomitant]
     Active Substance: HYDROXYCHLOROQUINE
  334. HYDROXYCHLOROQUINE [Concomitant]
     Active Substance: HYDROXYCHLOROQUINE
     Route: 048
  335. HYDROXYCHLOROQUINE [Concomitant]
     Active Substance: HYDROXYCHLOROQUINE
     Route: 058
  336. HYDROXYCHLOROQUINE [Concomitant]
     Active Substance: HYDROXYCHLOROQUINE
     Route: 058
  337. HYDROXYCHLOROQUINE [Concomitant]
     Active Substance: HYDROXYCHLOROQUINE
     Route: 048
  338. HYDROXYCHLOROQUINE [Concomitant]
     Active Substance: HYDROXYCHLOROQUINE
     Route: 048
  339. HYDROXYCHLOROQUINE [Concomitant]
     Active Substance: HYDROXYCHLOROQUINE
     Route: 048
  340. HYDROXYCHLOROQUINE [Concomitant]
     Active Substance: HYDROXYCHLOROQUINE
  341. HYDROXYCHLOROQUINE [Concomitant]
     Active Substance: HYDROXYCHLOROQUINE
     Route: 048
  342. HYDROXYCHLOROQUINE [Concomitant]
     Active Substance: HYDROXYCHLOROQUINE
     Route: 048
  343. HYDROXYCHLOROQUINE [Concomitant]
     Active Substance: HYDROXYCHLOROQUINE
     Route: 058
  344. HYDROXYCHLOROQUINE [Concomitant]
     Active Substance: HYDROXYCHLOROQUINE
  345. HYDROXYCHLOROQUINE [Concomitant]
     Active Substance: HYDROXYCHLOROQUINE
  346. HYDROXYCHLOROQUINE [Concomitant]
     Active Substance: HYDROXYCHLOROQUINE
  347. HYDROXYCHLOROQUINE [Concomitant]
     Active Substance: HYDROXYCHLOROQUINE
  348. HYDROXYCHLOROQUINE [Concomitant]
     Active Substance: HYDROXYCHLOROQUINE
     Route: 048
  349. HYDROXYCHLOROQUINE [Concomitant]
     Active Substance: HYDROXYCHLOROQUINE
  350. HYDROXYCHLOROQUINE [Concomitant]
     Active Substance: HYDROXYCHLOROQUINE
     Route: 005
  351. HYDROXYCHLOROQUINE [Concomitant]
     Active Substance: HYDROXYCHLOROQUINE
     Route: 048
  352. HYDROXYCHLOROQUINE [Concomitant]
     Active Substance: HYDROXYCHLOROQUINE
  353. HYDROXYCHLOROQUINE [Concomitant]
     Active Substance: HYDROXYCHLOROQUINE
     Route: 005
  354. HYDROXYCHLOROQUINE [Concomitant]
     Active Substance: HYDROXYCHLOROQUINE
     Route: 048
  355. HYDROXYCHLOROQUINE [Concomitant]
     Active Substance: HYDROXYCHLOROQUINE
  356. HYDROXYCHLOROQUINE [Concomitant]
     Active Substance: HYDROXYCHLOROQUINE
     Route: 048
  357. HYDROXYCHLOROQUINE [Concomitant]
     Active Substance: HYDROXYCHLOROQUINE
  358. HYDROXYCHLOROQUINE [Concomitant]
     Active Substance: HYDROXYCHLOROQUINE
     Route: 048
  359. HYDROXYCHLOROQUINE [Concomitant]
     Active Substance: HYDROXYCHLOROQUINE
  360. HYDROXYCHLOROQUINE [Concomitant]
     Active Substance: HYDROXYCHLOROQUINE
     Route: 048
  361. HYDROXYCHLOROQUINE SULFATE [Concomitant]
     Active Substance: HYDROXYCHLOROQUINE SULFATE
     Indication: Rheumatoid arthritis
     Route: 048
  362. HYDROXYCHLOROQUINE SULFATE [Concomitant]
     Active Substance: HYDROXYCHLOROQUINE SULFATE
     Route: 048
  363. HYDROXYCHLOROQUINE SULFATE [Concomitant]
     Active Substance: HYDROXYCHLOROQUINE SULFATE
  364. HYDROXYCHLOROQUINE SULFATE [Concomitant]
     Active Substance: HYDROXYCHLOROQUINE SULFATE
     Route: 016
  365. HYDROXYCHLOROQUINE SULFATE [Concomitant]
     Active Substance: HYDROXYCHLOROQUINE SULFATE
     Route: 048
  366. HYDROXYCHLOROQUINE SULFATE [Concomitant]
     Active Substance: HYDROXYCHLOROQUINE SULFATE
     Route: 048
  367. INFLIXIMAB [Concomitant]
     Active Substance: INFLIXIMAB
     Indication: Rheumatoid arthritis
     Route: 042
  368. INFLIXIMAB [Concomitant]
     Active Substance: INFLIXIMAB
     Route: 042
  369. INFLIXIMAB [Concomitant]
     Active Substance: INFLIXIMAB
     Route: 058
  370. INFLIXIMAB [Concomitant]
     Active Substance: INFLIXIMAB
     Route: 042
  371. INFLIXIMAB [Concomitant]
     Active Substance: INFLIXIMAB
     Route: 042
  372. INFLIXIMAB [Concomitant]
     Active Substance: INFLIXIMAB
  373. INFLIXIMAB [Concomitant]
     Active Substance: INFLIXIMAB
     Route: 042
  374. INFLIXIMAB [Concomitant]
     Active Substance: INFLIXIMAB
     Route: 042
  375. INFLIXIMAB [Concomitant]
     Active Substance: INFLIXIMAB
     Route: 042
  376. KEVZARA [Concomitant]
     Active Substance: SARILUMAB
     Indication: Rheumatoid arthritis
  377. KEVZARA [Concomitant]
     Active Substance: SARILUMAB
  378. LAMICTAL [Concomitant]
     Active Substance: LAMOTRIGINE
     Indication: Product used for unknown indication
     Route: 048
  379. LAMICTAL [Concomitant]
     Active Substance: LAMOTRIGINE
     Route: 048
  380. LAMICTAL [Concomitant]
     Active Substance: LAMOTRIGINE
     Route: 048
  381. LAMICTAL [Concomitant]
     Active Substance: LAMOTRIGINE
     Route: 048
  382. LAMICTAL [Concomitant]
     Active Substance: LAMOTRIGINE
     Route: 048
  383. LAMICTAL [Concomitant]
     Active Substance: LAMOTRIGINE
     Route: 048
  384. LAMICTAL [Concomitant]
     Active Substance: LAMOTRIGINE
     Route: 048
  385. LAMICTAL [Concomitant]
     Active Substance: LAMOTRIGINE
     Route: 048
  386. LAMICTAL [Concomitant]
     Active Substance: LAMOTRIGINE
     Route: 048
  387. LEFLUNOMIDE [Concomitant]
     Active Substance: LEFLUNOMIDE
     Indication: Rheumatoid arthritis
  388. LEFLUNOMIDE [Concomitant]
     Active Substance: LEFLUNOMIDE
  389. LEFLUNOMIDE [Concomitant]
     Active Substance: LEFLUNOMIDE
     Route: 048
  390. LEFLUNOMIDE [Concomitant]
     Active Substance: LEFLUNOMIDE
     Route: 048
  391. LEFLUNOMIDE [Concomitant]
     Active Substance: LEFLUNOMIDE
  392. LEFLUNOMIDE [Concomitant]
     Active Substance: LEFLUNOMIDE
  393. LEFLUNOMIDE [Concomitant]
     Active Substance: LEFLUNOMIDE
  394. LEFLUNOMIDE [Concomitant]
     Active Substance: LEFLUNOMIDE
     Route: 048
  395. LEFLUNOMIDE [Concomitant]
     Active Substance: LEFLUNOMIDE
  396. LEFLUNOMIDE [Concomitant]
     Active Substance: LEFLUNOMIDE
  397. LEFLUNOMIDE [Concomitant]
     Active Substance: LEFLUNOMIDE
     Route: 048
  398. METHOTREXATE [Concomitant]
     Active Substance: METHOTREXATE
     Indication: Rheumatoid arthritis
     Route: 013
  399. METHOTREXATE [Concomitant]
     Active Substance: METHOTREXATE
     Route: 048
  400. METHOTREXATE [Concomitant]
     Active Substance: METHOTREXATE
     Route: 048
  401. METHOTREXATE [Concomitant]
     Active Substance: METHOTREXATE
     Route: 048
  402. METHOTREXATE [Concomitant]
     Active Substance: METHOTREXATE
     Route: 058
  403. METHOTREXATE [Concomitant]
     Active Substance: METHOTREXATE
     Route: 048
  404. METHOTREXATE [Concomitant]
     Active Substance: METHOTREXATE
     Route: 048
  405. METHOTREXATE [Concomitant]
     Active Substance: METHOTREXATE
     Route: 048
  406. METHOTREXATE [Concomitant]
     Active Substance: METHOTREXATE
     Route: 058
  407. METHOTREXATE [Concomitant]
     Active Substance: METHOTREXATE
     Route: 058
  408. METHOTREXATE [Concomitant]
     Active Substance: METHOTREXATE
     Route: 058
  409. METHOTREXATE [Concomitant]
     Active Substance: METHOTREXATE
     Route: 013
  410. METHOTREXATE [Concomitant]
     Active Substance: METHOTREXATE
     Route: 058
  411. METHOTREXATE [Concomitant]
     Active Substance: METHOTREXATE
     Route: 058
  412. METHOTREXATE [Concomitant]
     Active Substance: METHOTREXATE
     Route: 048
  413. METHOTREXATE [Concomitant]
     Active Substance: METHOTREXATE
     Route: 058
  414. METHOTREXATE [Concomitant]
     Active Substance: METHOTREXATE
     Route: 048
  415. METHOTREXATE [Concomitant]
     Active Substance: METHOTREXATE
     Route: 048
  416. METHOTREXATE [Concomitant]
     Active Substance: METHOTREXATE
     Route: 058
  417. METHOTREXATE [Concomitant]
     Active Substance: METHOTREXATE
     Route: 048
  418. METHOTREXATE [Concomitant]
     Active Substance: METHOTREXATE
     Route: 048
  419. METHOTREXATE [Concomitant]
     Active Substance: METHOTREXATE
  420. METHOTREXATE [Concomitant]
     Active Substance: METHOTREXATE
  421. METHOTREXATE [Concomitant]
     Active Substance: METHOTREXATE
     Route: 016
  422. METHOTREXATE [Concomitant]
     Active Substance: METHOTREXATE
     Route: 013
  423. METHOTREXATE [Concomitant]
     Active Substance: METHOTREXATE
     Route: 058
  424. METHOTREXATE [Concomitant]
     Active Substance: METHOTREXATE
     Route: 013
  425. METHOTREXATE [Concomitant]
     Active Substance: METHOTREXATE
  426. METHOTREXATE [Concomitant]
     Active Substance: METHOTREXATE
     Route: 048
  427. METHOTREXATE [Concomitant]
     Active Substance: METHOTREXATE
     Route: 048
  428. METHOTREXATE [Concomitant]
     Active Substance: METHOTREXATE
     Route: 048
  429. METHOTREXATE [Concomitant]
     Active Substance: METHOTREXATE
     Route: 048
  430. METHOTREXATE [Concomitant]
     Active Substance: METHOTREXATE
     Route: 048
  431. METHOTREXATE [Concomitant]
     Active Substance: METHOTREXATE
     Route: 048
  432. METHOTREXATE [Concomitant]
     Active Substance: METHOTREXATE
     Route: 013
  433. METHOTREXATE [Concomitant]
     Active Substance: METHOTREXATE
     Route: 048
  434. METHOTREXATE [Concomitant]
     Active Substance: METHOTREXATE
  435. METHOTREXATE [Concomitant]
     Active Substance: METHOTREXATE
  436. METHOTREXATE [Concomitant]
     Active Substance: METHOTREXATE
  437. METHOTREXATE [Concomitant]
     Active Substance: METHOTREXATE
     Route: 058
  438. METHOTREXATE [Concomitant]
     Active Substance: METHOTREXATE
     Route: 048
  439. METHOTREXATE [Concomitant]
     Active Substance: METHOTREXATE
  440. METHOTREXATE [Concomitant]
     Active Substance: METHOTREXATE
     Route: 048
  441. METHOTREXATE [Concomitant]
     Active Substance: METHOTREXATE
     Route: 048
  442. METHYLPREDNISOLONE [Concomitant]
     Active Substance: METHYLPREDNISOLONE
     Indication: Product used for unknown indication
  443. METHYLPREDNISOLONE [Concomitant]
     Active Substance: METHYLPREDNISOLONE
  444. METHYLPREDNISOLONE SODIUM SUCCINATE [Concomitant]
     Active Substance: METHYLPREDNISOLONE SODIUM SUCCINATE
     Indication: Product used for unknown indication
  445. METHYLPREDNISOLONE SODIUM SUCCINATE [Concomitant]
     Active Substance: METHYLPREDNISOLONE SODIUM SUCCINATE
  446. MINOCYCLINE HYDROCHLORIDE [Concomitant]
     Active Substance: MINOCYCLINE HYDROCHLORIDE
     Indication: Rheumatoid arthritis
  447. MINOCYCLINE [Concomitant]
     Active Substance: MINOCYCLINE HYDROCHLORIDE
     Indication: Product used for unknown indication
  448. MINOCYCLINE [Concomitant]
     Active Substance: MINOCYCLINE HYDROCHLORIDE
  449. MINOCYCLINE HYDROCHLORIDE [Concomitant]
     Active Substance: MINOCYCLINE HYDROCHLORIDE
     Indication: Rheumatoid arthritis
  450. MINOCYCLINE HYDROCHLORIDE [Concomitant]
     Active Substance: MINOCYCLINE HYDROCHLORIDE
  451. MINOCYCLINE HYDROCHLORIDE [Concomitant]
     Active Substance: MINOCYCLINE HYDROCHLORIDE
  452. MYOCHRYSINE [Concomitant]
     Active Substance: GOLD SODIUM THIOMALATE
     Indication: Rheumatoid arthritis
     Route: 030
  453. MYOCHRYSINE [Concomitant]
     Active Substance: GOLD SODIUM THIOMALATE
     Route: 030
  454. MYRBETRIQ [Concomitant]
     Active Substance: MIRABEGRON
     Indication: Product used for unknown indication
  455. MYRBETRIQ [Concomitant]
     Active Substance: MIRABEGRON
     Dosage: TABLET (EXTENDED-RELEASE)
     Route: 030
  456. MYRBETRIQ [Concomitant]
     Active Substance: MIRABEGRON
     Dosage: TABLET (EXTENDED-RELEASE)
  457. MYRBETRIQ [Concomitant]
     Active Substance: MIRABEGRON
     Dosage: TABLET (EXTENDED-RELEASE)
  458. MYRBETRIQ [Concomitant]
     Active Substance: MIRABEGRON
  459. MYRBETRIQ [Concomitant]
     Active Substance: MIRABEGRON
  460. NAPROXEN [Concomitant]
     Active Substance: NAPROXEN
     Indication: Product used for unknown indication
  461. NAPROXEN [Concomitant]
     Active Substance: NAPROXEN
  462. NAPROXEN [Concomitant]
     Active Substance: NAPROXEN
     Indication: Product used for unknown indication
  463. NAPROXEN [Concomitant]
     Active Substance: NAPROXEN
  464. NAPROXEN SODIUM [Concomitant]
     Active Substance: NAPROXEN SODIUM
     Indication: Rheumatoid arthritis
  465. NAPROXEN SODIUM [Concomitant]
     Active Substance: NAPROXEN SODIUM
  466. NUCALA [Concomitant]
     Active Substance: MEPOLIZUMAB
     Indication: Product used for unknown indication
  467. NUCALA [Concomitant]
     Active Substance: MEPOLIZUMAB
  468. OXYCODONE [Concomitant]
     Active Substance: OXYCODONE
     Indication: Product used for unknown indication
  469. OXYCODONE [Concomitant]
     Active Substance: OXYCODONE
  470. OXYCODONE TEREPHTHALATE [Concomitant]
     Active Substance: OXYCODONE TEREPHTHALATE
     Indication: Product used for unknown indication
  471. OXYCODONE TEREPHTHALATE [Concomitant]
     Active Substance: OXYCODONE TEREPHTHALATE
  472. PHENYLEPHRINE HYDROCHLORIDE [Concomitant]
     Active Substance: PHENYLEPHRINE HYDROCHLORIDE
     Indication: Rheumatoid arthritis
  473. PHENYLEPHRINE HYDROCHLORIDE [Concomitant]
     Active Substance: PHENYLEPHRINE HYDROCHLORIDE
  474. PHTHALYLSULFATHIAZOLE [Concomitant]
     Active Substance: PHTHALYLSULFATHIAZOLE
     Indication: Rheumatoid arthritis
     Route: 048
  475. PHTHALYLSULFATHIAZOLE [Concomitant]
     Active Substance: PHTHALYLSULFATHIAZOLE
     Route: 048
  476. PHTHALYLSULFATHIAZOLE [Concomitant]
     Active Substance: PHTHALYLSULFATHIAZOLE
     Route: 042
  477. PHTHALYLSULFATHIAZOLE [Concomitant]
     Active Substance: PHTHALYLSULFATHIAZOLE
     Route: 058
  478. PHTHALYLSULFATHIAZOLE [Concomitant]
     Active Substance: PHTHALYLSULFATHIAZOLE
     Route: 067
  479. PHTHALYLSULFATHIAZOLE [Concomitant]
     Active Substance: PHTHALYLSULFATHIAZOLE
     Route: 048
  480. PHTHALYLSULFATHIAZOLE [Concomitant]
     Active Substance: PHTHALYLSULFATHIAZOLE
     Route: 048
  481. PHTHALYLSULFATHIAZOLE [Concomitant]
     Active Substance: PHTHALYLSULFATHIAZOLE
  482. PREDNISONE [Concomitant]
     Active Substance: PREDNISONE
     Indication: Rheumatoid arthritis
     Route: 048
  483. PREDNISONE [Concomitant]
     Active Substance: PREDNISONE
     Route: 048
  484. PREDNISONE [Concomitant]
     Active Substance: PREDNISONE
     Route: 048
  485. PREDNISONE [Concomitant]
     Active Substance: PREDNISONE
     Route: 048
  486. PREDNISONE [Concomitant]
     Active Substance: PREDNISONE
  487. PREDNISONE [Concomitant]
     Active Substance: PREDNISONE
  488. PREDNISONE [Concomitant]
     Active Substance: PREDNISONE
  489. PREDNISONE [Concomitant]
     Active Substance: PREDNISONE
     Route: 048
  490. PREDNISONE [Concomitant]
     Active Substance: PREDNISONE
  491. PREDNISONE [Concomitant]
     Active Substance: PREDNISONE
     Route: 048
  492. PREDNISONE [Concomitant]
     Active Substance: PREDNISONE
     Route: 048
  493. PREDNISONE [Concomitant]
     Active Substance: PREDNISONE
  494. PREDNISONE [Concomitant]
     Active Substance: PREDNISONE
  495. PREDNISONE [Concomitant]
     Active Substance: PREDNISONE
  496. PREDNISONE [Concomitant]
     Active Substance: PREDNISONE
     Route: 048
  497. PREDNISONE [Concomitant]
     Active Substance: PREDNISONE
     Route: 048
  498. PREDNISONE [Concomitant]
     Active Substance: PREDNISONE
     Route: 048
  499. PREDNISONE [Concomitant]
     Active Substance: PREDNISONE
  500. PREDNISONE [Concomitant]
     Active Substance: PREDNISONE
  501. PSEUDOEPHEDRINE HYDROCHLORIDE [Concomitant]
     Active Substance: PSEUDOEPHEDRINE HYDROCHLORIDE
     Indication: Rheumatoid arthritis
  502. PSEUDOEPHEDRINE HYDROCHLORIDE [Concomitant]
     Active Substance: PSEUDOEPHEDRINE HYDROCHLORIDE
  503. PSEUDOEPHEDRINE HYDROCHLORIDE [Concomitant]
     Active Substance: PSEUDOEPHEDRINE HYDROCHLORIDE
  504. PSEUDOEPHEDRINE HYDROCHLORIDE [Concomitant]
     Active Substance: PSEUDOEPHEDRINE HYDROCHLORIDE
     Route: 048
  505. PSEUDOEPHEDRINE HYDROCHLORIDE [Concomitant]
     Active Substance: PSEUDOEPHEDRINE HYDROCHLORIDE
     Route: 030
  506. PSEUDOEPHEDRINE HYDROCHLORIDE [Concomitant]
     Active Substance: PSEUDOEPHEDRINE HYDROCHLORIDE
  507. PSEUDOEPHEDRINE HYDROCHLORIDE [Concomitant]
     Active Substance: PSEUDOEPHEDRINE HYDROCHLORIDE
  508. PSEUDOEPHEDRINE HYDROCHLORIDE [Concomitant]
     Active Substance: PSEUDOEPHEDRINE HYDROCHLORIDE
  509. PSEUDOEPHEDRINE HYDROCHLORIDE [Concomitant]
     Active Substance: PSEUDOEPHEDRINE HYDROCHLORIDE
  510. RAMIPRIL [Concomitant]
     Active Substance: RAMIPRIL
     Indication: Rheumatoid arthritis
     Route: 016
  511. RAMIPRIL [Concomitant]
     Active Substance: RAMIPRIL
     Route: 042
  512. RAMIPRIL [Concomitant]
     Active Substance: RAMIPRIL
     Route: 016
  513. RANITIDINE [Concomitant]
     Active Substance: RANITIDINE
     Indication: Product used for unknown indication
  514. RANITIDINE [Concomitant]
     Active Substance: RANITIDINE
  515. RANITIDINE [Concomitant]
     Active Substance: RANITIDINE
  516. RANITIDINE [Concomitant]
     Active Substance: RANITIDINE
  517. RANITIDINE [Concomitant]
     Active Substance: RANITIDINE
     Route: 058
  518. RANITIDINE [Concomitant]
     Active Substance: RANITIDINE
     Route: 042
  519. CETIRIZINE HYDROCHLORIDE\PSEUDOEPHEDRINE HYDROCHLORIDE [Concomitant]
     Active Substance: CETIRIZINE HYDROCHLORIDE\PSEUDOEPHEDRINE HYDROCHLORIDE
     Indication: Rheumatoid arthritis
     Route: 042
  520. CETIRIZINE HYDROCHLORIDE\PSEUDOEPHEDRINE HYDROCHLORIDE [Concomitant]
     Active Substance: CETIRIZINE HYDROCHLORIDE\PSEUDOEPHEDRINE HYDROCHLORIDE
  521. CETIRIZINE HYDROCHLORIDE\PSEUDOEPHEDRINE HYDROCHLORIDE [Concomitant]
     Active Substance: CETIRIZINE HYDROCHLORIDE\PSEUDOEPHEDRINE HYDROCHLORIDE
  522. CETIRIZINE HYDROCHLORIDE\PSEUDOEPHEDRINE HYDROCHLORIDE [Concomitant]
     Active Substance: CETIRIZINE HYDROCHLORIDE\PSEUDOEPHEDRINE HYDROCHLORIDE
  523. REMICADE [Concomitant]
     Active Substance: INFLIXIMAB
     Indication: Rheumatoid arthritis
     Route: 058
  524. REMICADE [Concomitant]
     Active Substance: INFLIXIMAB
     Route: 042
  525. REMICADE [Concomitant]
     Active Substance: INFLIXIMAB
     Route: 042
  526. REMICADE [Concomitant]
     Active Substance: INFLIXIMAB
     Route: 042
  527. REMICADE [Concomitant]
     Active Substance: INFLIXIMAB
  528. REMICADE [Concomitant]
     Active Substance: INFLIXIMAB
     Route: 041
  529. RITUXIMAB [Concomitant]
     Active Substance: RITUXIMAB
     Indication: Rheumatoid arthritis
     Route: 041
  530. RITUXIMAB [Concomitant]
     Active Substance: RITUXIMAB
  531. RITUXIMAB [Concomitant]
     Active Substance: RITUXIMAB
     Route: 042
  532. RITUXIMAB [Concomitant]
     Active Substance: RITUXIMAB
  533. RITUXIMAB [Concomitant]
     Active Substance: RITUXIMAB
     Route: 058
  534. RITUXIMAB [Concomitant]
     Active Substance: RITUXIMAB
  535. RITUXIMAB [Concomitant]
     Active Substance: RITUXIMAB
     Route: 043
  536. RITUXIMAB [Concomitant]
     Active Substance: RITUXIMAB
     Route: 042
  537. RITUXIMAB [Concomitant]
     Active Substance: RITUXIMAB
  538. RITUXIMAB [Concomitant]
     Active Substance: RITUXIMAB
     Route: 058
  539. RITUXIMAB [Concomitant]
     Active Substance: RITUXIMAB
     Route: 042
  540. RITUXIMAB [Concomitant]
     Active Substance: RITUXIMAB
  541. RITUXIMAB [Concomitant]
     Active Substance: RITUXIMAB
     Route: 042
  542. RITUXIMAB [Concomitant]
     Active Substance: RITUXIMAB
     Route: 042
  543. RITUXIMAB [Concomitant]
     Active Substance: RITUXIMAB
     Route: 042
  544. RITUXIMAB [Concomitant]
     Active Substance: RITUXIMAB
     Route: 042
  545. RITUXIMAB [Concomitant]
     Active Substance: RITUXIMAB
     Route: 042
  546. RITUXIMAB [Concomitant]
     Active Substance: RITUXIMAB
     Route: 040
  547. RITUXIMAB [Concomitant]
     Active Substance: RITUXIMAB
  548. RITUXIMAB [Concomitant]
     Active Substance: RITUXIMAB
     Route: 016
  549. RITUXIMAB [Concomitant]
     Active Substance: RITUXIMAB
  550. RITUXIMAB [Concomitant]
     Active Substance: RITUXIMAB
  551. RITUXIMAB [Concomitant]
     Active Substance: RITUXIMAB
  552. RITUXIMAB [Concomitant]
     Active Substance: RITUXIMAB
  553. RITUXIMAB [Concomitant]
     Active Substance: RITUXIMAB
     Route: 042
  554. RITUXIMAB [Concomitant]
     Active Substance: RITUXIMAB
     Route: 042
  555. RITUXIMAB [Concomitant]
     Active Substance: RITUXIMAB
     Route: 042
  556. RITUXIMAB [Concomitant]
     Active Substance: RITUXIMAB
     Route: 042
  557. RITUXIMAB [Concomitant]
     Active Substance: RITUXIMAB
     Route: 042
  558. RITUXIMAB [Concomitant]
     Active Substance: RITUXIMAB
     Route: 058
  559. RITUXIMAB [Concomitant]
     Active Substance: RITUXIMAB
     Route: 058
  560. RITUXIMAB [Concomitant]
     Active Substance: RITUXIMAB
     Route: 043
  561. RITUXIMAB [Concomitant]
     Active Substance: RITUXIMAB
     Route: 043
  562. RITUXIMAB [Concomitant]
     Active Substance: RITUXIMAB
     Route: 016
  563. RITUXIMAB [Concomitant]
     Active Substance: RITUXIMAB
     Route: 016
  564. RITUXIMAB [Concomitant]
     Active Substance: RITUXIMAB
  565. SULFASALAZINE [Concomitant]
     Active Substance: SULFASALAZINE
     Indication: Rheumatoid arthritis
  566. SULFASALAZINE [Concomitant]
     Active Substance: SULFASALAZINE
  567. SULFASALAZINE [Concomitant]
     Active Substance: SULFASALAZINE
     Route: 048
  568. SULFASALAZINE [Concomitant]
     Active Substance: SULFASALAZINE
     Route: 058
  569. SULFASALAZINE [Concomitant]
     Active Substance: SULFASALAZINE
     Route: 048
  570. SULFASALAZINE [Concomitant]
     Active Substance: SULFASALAZINE
     Route: 048
  571. SULFASALAZINE [Concomitant]
     Active Substance: SULFASALAZINE
     Route: 048
  572. SULFASALAZINE [Concomitant]
     Active Substance: SULFASALAZINE
  573. SULFASALAZINE [Concomitant]
     Active Substance: SULFASALAZINE
  574. SULFASALAZINE [Concomitant]
     Active Substance: SULFASALAZINE
     Route: 048
  575. SIMPONI [Concomitant]
     Active Substance: GOLIMUMAB
     Indication: Rheumatoid arthritis
     Route: 058
  576. SIMPONI [Concomitant]
     Active Substance: GOLIMUMAB
     Indication: Prostatic specific antigen
  577. SIMPONI [Concomitant]
     Active Substance: GOLIMUMAB
     Route: 058
  578. SIMPONI [Concomitant]
     Active Substance: GOLIMUMAB
  579. SIRUKUMAB [Concomitant]
     Active Substance: SIRUKUMAB
     Indication: Product used for unknown indication
  580. SIRUKUMAB [Concomitant]
     Active Substance: SIRUKUMAB
  581. GOLD SODIUM THIOMALATE [Concomitant]
     Active Substance: GOLD SODIUM THIOMALATE
     Indication: Product used for unknown indication
     Route: 048
  582. GOLD SODIUM THIOMALATE [Concomitant]
     Active Substance: GOLD SODIUM THIOMALATE
     Route: 058
  583. GOLD SODIUM THIOMALATE [Concomitant]
     Active Substance: GOLD SODIUM THIOMALATE
     Route: 030
  584. STELARA [Concomitant]
     Active Substance: USTEKINUMAB
     Indication: Rheumatoid arthritis
     Route: 058
  585. STELARA [Concomitant]
     Active Substance: USTEKINUMAB
  586. SULFASALAZINE [Concomitant]
     Active Substance: SULFASALAZINE
     Indication: Rheumatoid arthritis
     Route: 048
  587. SULFASALAZINE [Concomitant]
     Active Substance: SULFASALAZINE
     Route: 058
  588. SULFASALAZINE [Concomitant]
     Active Substance: SULFASALAZINE
     Route: 058
  589. SULFASALAZINE [Concomitant]
     Active Substance: SULFASALAZINE
     Route: 048
  590. SULFASALAZINE [Concomitant]
     Active Substance: SULFASALAZINE
     Route: 048
  591. SULFASALAZINE [Concomitant]
     Active Substance: SULFASALAZINE
     Route: 048
  592. SULFASALAZINE [Concomitant]
     Active Substance: SULFASALAZINE
     Route: 058
  593. SULFASALAZINE [Concomitant]
     Active Substance: SULFASALAZINE
     Route: 048
  594. SULFASALAZINE [Concomitant]
     Active Substance: SULFASALAZINE
     Route: 058
  595. SULFASALAZINE [Concomitant]
     Active Substance: SULFASALAZINE
     Route: 048
  596. SULFASALAZINE [Concomitant]
     Active Substance: SULFASALAZINE
     Route: 048
  597. SULFASALAZINE [Concomitant]
     Active Substance: SULFASALAZINE
     Route: 048
  598. SULFASALAZINE [Concomitant]
     Active Substance: SULFASALAZINE
     Route: 048
  599. SULFASALAZINE [Concomitant]
     Active Substance: SULFASALAZINE
     Route: 048
  600. SULFASALAZINE [Concomitant]
     Active Substance: SULFASALAZINE
     Route: 048
  601. TOCILIZUMAB [Concomitant]
     Active Substance: TOCILIZUMAB
     Indication: Rheumatoid arthritis
     Route: 058
  602. TOCILIZUMAB [Concomitant]
     Active Substance: TOCILIZUMAB
     Route: 042
  603. TOCILIZUMAB [Concomitant]
     Active Substance: TOCILIZUMAB
  604. TOCILIZUMAB [Concomitant]
     Active Substance: TOCILIZUMAB
     Route: 058
  605. TOCILIZUMAB [Concomitant]
     Active Substance: TOCILIZUMAB
     Route: 042
  606. TOFACITINIB [Concomitant]
     Active Substance: TOFACITINIB
     Indication: Rheumatoid arthritis
  607. TOFACITINIB [Concomitant]
     Active Substance: TOFACITINIB
     Route: 048
  608. TOFACITINIB [Concomitant]
     Active Substance: TOFACITINIB
  609. TOFACITINIB [Concomitant]
     Active Substance: TOFACITINIB
  610. TOFACITINIB CITRATE [Concomitant]
     Active Substance: TOFACITINIB CITRATE
     Indication: Rheumatoid arthritis
  611. TOFACITINIB CITRATE [Concomitant]
     Active Substance: TOFACITINIB CITRATE
     Route: 048
  612. TOFACITINIB CITRATE [Concomitant]
     Active Substance: TOFACITINIB CITRATE
  613. TOPIRAMATE [Concomitant]
     Active Substance: TOPIRAMATE
     Indication: Migraine
  614. TOPIRAMATE [Concomitant]
     Active Substance: TOPIRAMATE
  615. TOPIRAMATE [Concomitant]
     Active Substance: TOPIRAMATE
  616. TOPIRAMATE [Concomitant]
     Active Substance: TOPIRAMATE
  617. TOPIRAMATE [Concomitant]
     Active Substance: TOPIRAMATE
  618. TOPIRAMATE [Concomitant]
     Active Substance: TOPIRAMATE
  619. TRAMADOL HYDROCHLORIDE [Concomitant]
     Active Substance: TRAMADOL HYDROCHLORIDE
     Indication: Product used for unknown indication
  620. TRAMADOL HYDROCHLORIDE [Concomitant]
     Active Substance: TRAMADOL HYDROCHLORIDE
  621. USTEKINUMAB [Concomitant]
     Active Substance: USTEKINUMAB
     Indication: Product used for unknown indication
  622. USTEKINUMAB [Concomitant]
     Active Substance: USTEKINUMAB
     Route: 058
  623. VITAMIN C [Concomitant]
     Active Substance: ASCORBIC ACID
     Indication: Product used for unknown indication
  624. VITAMIN C [Concomitant]
     Active Substance: ASCORBIC ACID
  625. VITAMIN D3 [Concomitant]
     Active Substance: CHOLECALCIFEROL
     Indication: Product used for unknown indication
  626. XELJANZ [Concomitant]
     Active Substance: TOFACITINIB CITRATE
     Indication: Rheumatoid arthritis
     Route: 048
  627. XELJANZ [Concomitant]
     Active Substance: TOFACITINIB CITRATE
  628. XELJANZ [Concomitant]
     Active Substance: TOFACITINIB CITRATE
     Route: 048
  629. XELJANZ [Concomitant]
     Active Substance: TOFACITINIB CITRATE
  630. XELJANZ [Concomitant]
     Active Substance: TOFACITINIB CITRATE
     Route: 048
  631. XELJANZ [Concomitant]
     Active Substance: TOFACITINIB CITRATE
     Route: 048
  632. XELJANZ [Concomitant]
     Active Substance: TOFACITINIB CITRATE
     Route: 048
  633. XELJANZ [Concomitant]
     Active Substance: TOFACITINIB CITRATE
     Route: 048
  634. XELJANZ [Concomitant]
     Active Substance: TOFACITINIB CITRATE
  635. XELJANZ [Concomitant]
     Active Substance: TOFACITINIB CITRATE
  636. GOLD [Concomitant]
     Active Substance: GOLD
     Indication: Product used for unknown indication
  637. GOLD [Concomitant]
     Active Substance: GOLD
  638. HAIR KERATIN AMINO ACIDS GOLD COMPLEX [Concomitant]
     Active Substance: HAIR KERATIN AMINO ACIDS GOLD COMPLEX
     Indication: Product used for unknown indication
  639. DICLOFENAC POTASSIUM [Concomitant]
     Active Substance: DICLOFENAC POTASSIUM
     Indication: Product used for unknown indication
  640. MEGLUMINE [Concomitant]
     Active Substance: MEGLUMINE
     Indication: Product used for unknown indication
     Route: 042
  641. MEGLUMINE [Concomitant]
     Active Substance: MEGLUMINE
  642. MEGLUMINE [Concomitant]
     Active Substance: MEGLUMINE
     Route: 040
  643. ALENDRONATE SODIUM [Concomitant]
     Active Substance: ALENDRONATE SODIUM
     Indication: Rheumatoid arthritis
     Route: 048
  644. ALENDRONATE SODIUM [Concomitant]
     Active Substance: ALENDRONATE SODIUM
     Route: 048
  645. ALENDRONATE SODIUM [Concomitant]
     Active Substance: ALENDRONATE SODIUM
  646. DESOGESTREL AND ETHINYL ESTRADIOL [Concomitant]
     Active Substance: DESOGESTREL\ETHINYL ESTRADIOL
     Indication: Product used for unknown indication
  647. OTEZLA [Concomitant]
     Active Substance: APREMILAST
     Indication: Product used for unknown indication
  648. ALENDRONATE SODIUM\CHOLECALCIFEROL [Concomitant]
     Active Substance: ALENDRONATE SODIUM\CHOLECALCIFEROL
     Indication: Rheumatoid arthritis
     Route: 048
  649. CALCIUM ASCORBATE [Concomitant]
     Active Substance: CALCIUM ASCORBATE
     Indication: Product used for unknown indication
  650. CALCIUM CARBONATE [Concomitant]
     Active Substance: CALCIUM CARBONATE
     Indication: Product used for unknown indication
  651. CALCIUM CITRATE [Concomitant]
     Active Substance: CALCIUM CITRATE
     Indication: Product used for unknown indication
  652. CALCIUM GLUBIONATE [Concomitant]
     Active Substance: CALCIUM GLUBIONATE
     Indication: Product used for unknown indication
     Route: 016
  653. CHOLECALCIFEROL [Concomitant]
     Active Substance: CHOLECALCIFEROL
     Indication: Rheumatoid arthritis
  654. CHOLECALCIFEROL [Concomitant]
     Active Substance: CHOLECALCIFEROL
  655. CHLORHEXIDINE GLUCONATE\ISOPROPYL ALCOHOL [Concomitant]
     Active Substance: CHLORHEXIDINE GLUCONATE\ISOPROPYL ALCOHOL
     Indication: Product used for unknown indication
     Route: 061
  656. HYDROCORTISONE PROBUTATE [Concomitant]
     Active Substance: HYDROCORTISONE PROBUTATE
     Indication: Rheumatoid arthritis
  657. DIETARY SUPPLEMENT [Concomitant]
     Active Substance: DIETARY SUPPLEMENT
     Indication: Product used for unknown indication
  658. DICLOFENAC DIETHYLAMINE [Concomitant]
     Active Substance: DICLOFENAC DIETHYLAMINE
     Indication: Product used for unknown indication
  659. TRAMADOL HYDROCHLORIDE [Concomitant]
     Active Substance: TRAMADOL HYDROCHLORIDE
     Indication: Product used for unknown indication
  660. AZATHIOPRINE [Concomitant]
     Active Substance: AZATHIOPRINE
     Indication: Product used for unknown indication
  661. DESOGESTREL AND ETHINYL ESTRADIOL [Concomitant]
     Active Substance: DESOGESTREL\ETHINYL ESTRADIOL
     Indication: Product used for unknown indication
  662. SULFAMETHOXAZOLE\TRIMETHOPRIM [Concomitant]
     Active Substance: SULFAMETHOXAZOLE\TRIMETHOPRIM
     Indication: Product used for unknown indication
  663. CETIRIZINE [Concomitant]
     Active Substance: CETIRIZINE HYDROCHLORIDE
     Indication: Rheumatoid arthritis
     Route: 048
  664. CETIRIZINE [Concomitant]
     Active Substance: CETIRIZINE HYDROCHLORIDE
     Route: 048
  665. CETIRIZINE [Concomitant]
     Active Substance: CETIRIZINE HYDROCHLORIDE
     Route: 048
  666. CETIRIZINE [Concomitant]
     Active Substance: CETIRIZINE HYDROCHLORIDE
  667. CETIRIZINE [Concomitant]
     Active Substance: CETIRIZINE HYDROCHLORIDE
  668. CETIRIZINE [Concomitant]
     Active Substance: CETIRIZINE HYDROCHLORIDE
  669. CETIRIZINE [Concomitant]
     Active Substance: CETIRIZINE HYDROCHLORIDE
  670. CETIRIZINE [Concomitant]
     Active Substance: CETIRIZINE HYDROCHLORIDE
  671. RANITIDINE HYDROCHLORIDE [Concomitant]
     Active Substance: RANITIDINE HYDROCHLORIDE
     Indication: Product used for unknown indication
  672. ERGOCALCIFEROL [Concomitant]
     Active Substance: ERGOCALCIFEROL
     Indication: Product used for unknown indication
  673. ERGOCALCIFEROL [Concomitant]
     Active Substance: ERGOCALCIFEROL
  674. MAGNESIUM CITRATE [Concomitant]
     Active Substance: MAGNESIUM CITRATE
     Indication: Product used for unknown indication
  675. THIAMINE HYDROCHLORIDE [Concomitant]
     Active Substance: THIAMINE HYDROCHLORIDE
     Indication: Product used for unknown indication
  676. ATOMOXETINE HYDROCHLORIDE [Concomitant]
     Active Substance: ATOMOXETINE HYDROCHLORIDE
     Indication: Migraine
  677. ATOMOXETINE HYDROCHLORIDE [Concomitant]
     Active Substance: ATOMOXETINE HYDROCHLORIDE
     Route: 005
  678. ATOMOXETINE HYDROCHLORIDE [Concomitant]
     Active Substance: ATOMOXETINE HYDROCHLORIDE
  679. ATOMOXETINE HYDROCHLORIDE [Concomitant]
     Active Substance: ATOMOXETINE HYDROCHLORIDE
     Route: 005
  680. HYDROCORTISONE\NEOMYCIN SULFATE [Concomitant]
     Active Substance: HYDROCORTISONE\NEOMYCIN SULFATE
     Indication: Product used for unknown indication
  681. ISOPROPYL ALCOHOL [Concomitant]
     Active Substance: ISOPROPYL ALCOHOL
     Indication: Product used for unknown indication
     Route: 061
  682. PERIOGARD [Concomitant]
     Active Substance: CHLORHEXIDINE GLUCONATE
     Indication: Product used for unknown indication
     Route: 061
  683. RIBOFLAVIN [Concomitant]
     Active Substance: RIBOFLAVIN
     Indication: Product used for unknown indication
  684. VITAMIN A [Concomitant]
     Active Substance: VITAMIN A
     Indication: Product used for unknown indication
  685. CALCIUM CARBONATE\CALCIUM GLUCONATE\CALCIUM LACTATE [Concomitant]
     Active Substance: CALCIUM CARBONATE\CALCIUM GLUCONATE\CALCIUM LACTATE
     Indication: Product used for unknown indication
  686. CHLORHEXIDINE GLUCONATE [Concomitant]
     Active Substance: CHLORHEXIDINE GLUCONATE
     Indication: Product used for unknown indication
  687. CHLORHEXIDINE GLUCONATE [Concomitant]
     Active Substance: CHLORHEXIDINE GLUCONATE
  688. CHLORHEXIDINE GLUCONATE [Concomitant]
     Active Substance: CHLORHEXIDINE GLUCONATE
  689. CHLORHEXIDINE GLUCONATE [Concomitant]
     Active Substance: CHLORHEXIDINE GLUCONATE
     Route: 061
  690. ACETAMINOPHEN AND CODEINE [Concomitant]
     Active Substance: ACETAMINOPHEN\CODEINE PHOSPHATE
     Indication: Rheumatoid arthritis
  691. ACETAMINOPHEN AND CODEINE [Concomitant]
     Active Substance: ACETAMINOPHEN\CODEINE PHOSPHATE
  692. ALENDRONATE [Concomitant]
     Active Substance: ALENDRONATE SODIUM
     Indication: Rheumatoid arthritis
  693. FLUMETHASONE PIVALATE [Concomitant]
     Active Substance: FLUMETHASONE PIVALATE
     Indication: Product used for unknown indication
  694. FLUMETHASONE PIVALATE [Concomitant]
     Active Substance: FLUMETHASONE PIVALATE
     Route: 003
  695. ATIVAN [Concomitant]
     Active Substance: LORAZEPAM
     Indication: Anxiety
  696. CALCIUM [Concomitant]
     Active Substance: CALCIUM
     Indication: Product used for unknown indication
  697. CALCIUM GLUCONATE [Concomitant]
     Active Substance: CALCIUM GLUCONATE
     Indication: Product used for unknown indication
  698. CALCIUM LACTATE [Concomitant]
     Active Substance: CALCIUM LACTATE
     Indication: Product used for unknown indication
  699. CHLORHEXIDINE GLUCONATE [Concomitant]
     Active Substance: CHLORHEXIDINE GLUCONATE
     Indication: Product used for unknown indication
     Route: 061
  700. CYANOCOBALAMIN [Concomitant]
     Active Substance: CYANOCOBALAMIN
     Indication: Product used for unknown indication
  701. IRON\VITAMINS [Concomitant]
     Active Substance: IRON\VITAMINS
     Indication: Product used for unknown indication
  702. GLUCOSAMINE [Concomitant]
     Active Substance: GLUCOSAMINE
     Indication: Product used for unknown indication
  703. IBUPROFEN [Concomitant]
     Active Substance: IBUPROFEN
     Indication: Rheumatoid arthritis
  704. LANSOPRAZOLE [Concomitant]
     Active Substance: LANSOPRAZOLE
     Indication: Product used for unknown indication
  705. LISINOPRIL [Concomitant]
     Active Substance: LISINOPRIL
     Indication: Product used for unknown indication
  706. LORAZEPAM [Concomitant]
     Active Substance: LORAZEPAM
     Indication: Product used for unknown indication
  707. MAGNESIUM [Concomitant]
     Active Substance: MAGNESIUM
     Indication: Product used for unknown indication
  708. PANTOPRAZOLE [Concomitant]
     Active Substance: PANTOPRAZOLE
     Indication: Product used for unknown indication
  709. PANTOPRAZOLE [Concomitant]
     Active Substance: PANTOPRAZOLE
     Indication: Product used for unknown indication
  710. PREDNISOLONE [Concomitant]
     Active Substance: PREDNISOLONE
     Indication: Product used for unknown indication
  711. QUETIAPINE [Concomitant]
     Active Substance: QUETIAPINE
     Indication: Product used for unknown indication
  712. QUETIAPINE FUMARATE [Concomitant]
     Active Substance: QUETIAPINE FUMARATE
     Indication: Product used for unknown indication
  713. RISEDRONATE SODIUM [Concomitant]
     Active Substance: RISEDRONATE SODIUM
     Indication: Product used for unknown indication
  714. DIETARY SUPPLEMENT\HERBALS [Concomitant]
     Active Substance: DIETARY SUPPLEMENT\HERBALS
     Indication: Product used for unknown indication
     Route: 048
  715. FISH OIL [Concomitant]
     Active Substance: FISH OIL
     Indication: Product used for unknown indication
  716. TOPAMAX [Concomitant]
     Active Substance: TOPIRAMATE
     Indication: Migraine
     Route: 048
  717. TOPAMAX [Concomitant]
     Active Substance: TOPIRAMATE
     Route: 048
  718. TOPAMAX [Concomitant]
     Active Substance: TOPIRAMATE
  719. TOPAMAX [Concomitant]
     Active Substance: TOPIRAMATE
     Route: 048
  720. TOPAMAX [Concomitant]
     Active Substance: TOPIRAMATE
     Route: 048
  721. VITAMIN D3 [Concomitant]
     Active Substance: CHOLECALCIFEROL
     Indication: Product used for unknown indication
  722. FLUMETHASONE PIVALATE [Concomitant]
     Active Substance: FLUMETHASONE PIVALATE
     Indication: Product used for unknown indication
  723. FLUMETHASONE PIVALATE [Concomitant]
     Active Substance: FLUMETHASONE PIVALATE
     Route: 003
  724. MEGLUMINE [Concomitant]
     Active Substance: MEGLUMINE
     Indication: Product used for unknown indication
     Route: 040
  725. MEGLUMINE [Concomitant]
     Active Substance: MEGLUMINE
     Route: 042
  726. MEGLUMINE [Concomitant]
     Active Substance: MEGLUMINE
  727. ZINC [Concomitant]
     Active Substance: ZINC
     Indication: Rheumatoid arthritis
  728. TOPAMAX [Concomitant]
     Active Substance: TOPIRAMATE
     Indication: Migraine
     Route: 048
  729. TOPAMAX [Concomitant]
     Active Substance: TOPIRAMATE
     Route: 048
  730. TOPAMAX [Concomitant]
     Active Substance: TOPIRAMATE
  731. TOPAMAX [Concomitant]
     Active Substance: TOPIRAMATE
     Route: 048
  732. TOPAMAX [Concomitant]
     Active Substance: TOPIRAMATE
     Route: 048
  733. ERENUMAB-AOOE [Concomitant]
     Active Substance: ERENUMAB-AOOE
     Indication: Migraine
  734. ERENUMAB-AOOE [Concomitant]
     Active Substance: ERENUMAB-AOOE
     Indication: Rheumatoid arthritis
  735. DIETARY SUPPLEMENT\HERBALS [Concomitant]
     Active Substance: DIETARY SUPPLEMENT\HERBALS
     Indication: Product used for unknown indication
  736. IBUPROFEN [Concomitant]
     Active Substance: IBUPROFEN
     Indication: Product used for unknown indication
  737. PANTOPRAZOLE [Concomitant]
     Active Substance: PANTOPRAZOLE
     Indication: Product used for unknown indication
  738. PIROXICAM [Concomitant]
     Active Substance: PIROXICAM
     Indication: Product used for unknown indication
  739. PREDNISONE [Concomitant]
     Active Substance: PREDNISONE
     Indication: Rheumatoid arthritis
     Route: 048
  740. PANTOPRAZOLE SODIUM ANHYDROUS [Concomitant]
     Active Substance: PANTOPRAZOLE SODIUM ANHYDROUS
     Indication: Product used for unknown indication
  741. PANTOPRAZOLE SODIUM ANHYDROUS [Concomitant]
     Active Substance: PANTOPRAZOLE SODIUM ANHYDROUS
  742. PANTOPRAZOLE SODIUM ANHYDROUS [Concomitant]
     Active Substance: PANTOPRAZOLE SODIUM ANHYDROUS
  743. PANTOPRAZOLE SODIUM ANHYDROUS [Concomitant]
     Active Substance: PANTOPRAZOLE SODIUM ANHYDROUS
  744. PANTOPRAZOLE SODIUM ANHYDROUS [Concomitant]
     Active Substance: PANTOPRAZOLE SODIUM ANHYDROUS
  745. PANTOPRAZOLE SODIUM ANHYDROUS [Concomitant]
     Active Substance: PANTOPRAZOLE SODIUM ANHYDROUS
  746. PANTOPRAZOLE SODIUM ANHYDROUS [Concomitant]
     Active Substance: PANTOPRAZOLE SODIUM ANHYDROUS
  747. PANTOPRAZOLE SODIUM ANHYDROUS [Concomitant]
     Active Substance: PANTOPRAZOLE SODIUM ANHYDROUS
  748. PANTOPRAZOLE SODIUM ANHYDROUS [Concomitant]
     Active Substance: PANTOPRAZOLE SODIUM ANHYDROUS
  749. CAFFEINE [Concomitant]
     Active Substance: CAFFEINE
     Indication: Product used for unknown indication
  750. CAFFEINE CITRATE [Concomitant]
     Active Substance: CAFFEINE CITRATE
     Indication: Product used for unknown indication
  751. DOCONEXENT [Concomitant]
     Active Substance: DOCONEXENT
     Indication: Product used for unknown indication
  752. ICOSAPENT [Concomitant]
     Active Substance: ICOSAPENT
     Indication: Product used for unknown indication
  753. ELBASVIR [Concomitant]
     Active Substance: ELBASVIR
     Indication: Product used for unknown indication
  754. HYRIMOZ [Concomitant]
     Active Substance: ADALIMUMAB-ADAZ
     Indication: Rheumatoid arthritis
     Route: 048
  755. ERGOCALCIFEROL\RETINOL [Concomitant]
     Active Substance: ERGOCALCIFEROL\RETINOL
     Indication: Product used for unknown indication
  756. HYDROCORTISONE ACETATE [Concomitant]
     Active Substance: HYDROCORTISONE ACETATE
     Indication: Product used for unknown indication
  757. NICOTINAMIDE [Concomitant]
     Active Substance: NIACINAMIDE
     Indication: Product used for unknown indication
  758. BETAMETHASONE [Concomitant]
     Active Substance: BETAMETHASONE
     Indication: Product used for unknown indication
  759. BETAMETHASONE [Concomitant]
     Active Substance: BETAMETHASONE
  760. BUPRENORPHINE [Concomitant]
     Active Substance: BUPRENORPHINE
     Indication: Product used for unknown indication
  761. CELECOXIB [Concomitant]
     Active Substance: CELECOXIB
     Indication: Product used for unknown indication
  762. CELECOXIB [Concomitant]
     Active Substance: CELECOXIB
  763. CELECOXIB [Concomitant]
     Active Substance: CELECOXIB
  764. CELECOXIB [Concomitant]
     Active Substance: CELECOXIB
  765. CYCLOBENZAPRINE [Concomitant]
     Active Substance: CYCLOBENZAPRINE
     Indication: Product used for unknown indication
  766. CYCLOBENZAPRINE [Concomitant]
     Active Substance: CYCLOBENZAPRINE
  767. DICLOFENAC [Concomitant]
     Active Substance: DICLOFENAC
     Indication: Product used for unknown indication
  768. DOMPERIDONE [Concomitant]
     Active Substance: DOMPERIDONE
     Indication: Product used for unknown indication
  769. FINACEA [Concomitant]
     Active Substance: AZELAIC ACID
     Indication: Product used for unknown indication
  770. FLUTICASONE [Concomitant]
     Active Substance: FLUTICASONE
     Indication: Product used for unknown indication
  771. HYDROMORPHONE [Concomitant]
     Active Substance: HYDROMORPHONE
     Indication: Rheumatoid arthritis
  772. LAMOTRIGINE [Concomitant]
     Active Substance: LAMOTRIGINE
     Indication: Product used for unknown indication
     Route: 048
  773. LAMOTRIGINE [Concomitant]
     Active Substance: LAMOTRIGINE
     Route: 048
  774. LAMOTRIGINE [Concomitant]
     Active Substance: LAMOTRIGINE
  775. LAMOTRIGINE [Concomitant]
     Active Substance: LAMOTRIGINE
  776. LAMOTRIGINE [Concomitant]
     Active Substance: LAMOTRIGINE
     Route: 048
  777. LAMOTRIGINE [Concomitant]
     Active Substance: LAMOTRIGINE
  778. LEVOMILNACIPRAN [Concomitant]
     Active Substance: LEVOMILNACIPRAN
     Indication: Product used for unknown indication
  779. PHOSPHORUS [Concomitant]
     Active Substance: PHOSPHORUS
  780. TRAZODONE [Concomitant]
     Active Substance: TRAZODONE HYDROCHLORIDE
     Indication: Product used for unknown indication
  781. TRAZODONE [Concomitant]
     Active Substance: TRAZODONE HYDROCHLORIDE
  782. TRETINOIN [Concomitant]
     Active Substance: TRETINOIN
     Indication: Product used for unknown indication
  783. TRETINOIN [Concomitant]
     Active Substance: TRETINOIN
  784. DEXTROMETHORPHAN [Concomitant]
     Active Substance: DEXTROMETHORPHAN
     Indication: Product used for unknown indication
  785. ETANERCEPT [Concomitant]
     Active Substance: ETANERCEPT
     Indication: Rheumatoid arthritis
  786. METHOTREXATE SODIUM [Concomitant]
     Active Substance: METHOTREXATE SODIUM
     Indication: Rheumatoid arthritis
     Route: 048
  787. METHOTREXATE SODIUM [Concomitant]
     Active Substance: METHOTREXATE SODIUM
  788. METHOTREXATE SODIUM [Concomitant]
     Active Substance: METHOTREXATE SODIUM
     Route: 048
  789. METHOTREXATE SODIUM [Concomitant]
     Active Substance: METHOTREXATE SODIUM
  790. FLUTICASONE FUROATE [Concomitant]
     Active Substance: FLUTICASONE FUROATE
     Indication: Product used for unknown indication
     Dosage: METERED DOSE SPRAY
  791. AZELAIC ACID [Concomitant]
     Active Substance: AZELAIC ACID
     Indication: Product used for unknown indication
     Dosage: METERED DOSE SPRAY
  792. AZELAIC ACID [Concomitant]
     Active Substance: AZELAIC ACID
     Route: 005
  793. BETAMETHASONE VALERATE [Concomitant]
     Active Substance: BETAMETHASONE VALERATE
     Indication: Product used for unknown indication
  794. BETAMETHASONE VALERATE [Concomitant]
     Active Substance: BETAMETHASONE VALERATE
  795. BOTOX [Concomitant]
     Active Substance: ONABOTULINUMTOXINA
     Indication: Migraine
     Route: 030
  796. CALCIUM PANTOTHENATE [Concomitant]
     Active Substance: CALCIUM PANTOTHENATE
     Indication: Product used for unknown indication
  797. TRICHOLINE CITRATE [Concomitant]
     Active Substance: TRICHOLINE CITRATE
     Indication: Product used for unknown indication
  798. FETZIMA [Concomitant]
     Active Substance: LEVOMILNACIPRAN HYDROCHLORIDE
     Indication: Product used for unknown indication
  799. FETZIMA [Concomitant]
     Active Substance: LEVOMILNACIPRAN HYDROCHLORIDE
  800. FLUTICASONE FUROATE [Concomitant]
     Active Substance: FLUTICASONE FUROATE
     Indication: Product used for unknown indication
  801. MILNACIPRAN HYDROCHLORIDE [Concomitant]
     Active Substance: MILNACIPRAN HYDROCHLORIDE
     Indication: Product used for unknown indication
  802. MILNACIPRAN HYDROCHLORIDE [Concomitant]
     Active Substance: MILNACIPRAN HYDROCHLORIDE
  803. PAROXETINE [Concomitant]
     Active Substance: PAROXETINE
     Indication: Product used for unknown indication
  804. PAROXETINE HYDROCHLORIDE [Concomitant]
     Active Substance: PAROXETINE HYDROCHLORIDE
     Indication: Product used for unknown indication
  805. PREDNICARBATE [Concomitant]
     Active Substance: PREDNICARBATE
     Indication: Product used for unknown indication
  806. CHLORAPREP [Concomitant]
     Active Substance: CHLORHEXIDINE GLUCONATE\ISOPROPYL ALCOHOL
     Indication: Product used for unknown indication
     Route: 061
  807. CHLORHEXIDINE [Concomitant]
     Active Substance: CHLORHEXIDINE
     Indication: Product used for unknown indication
     Route: 002
  808. CLIOQUINOL\FLUMETHASONE [Concomitant]
     Active Substance: CLIOQUINOL\FLUMETHASONE
     Indication: Product used for unknown indication
     Route: 058
  809. LYRICA [Concomitant]
     Active Substance: PREGABALIN
     Indication: Product used for unknown indication
  810. NEOMYCIN [Concomitant]
     Active Substance: NEOMYCIN
     Indication: Product used for unknown indication
  811. PREGABALIN [Concomitant]
     Active Substance: PREGABALIN
     Indication: Product used for unknown indication
  812. PSEUDOEPHEDRINE HYDROCHLORIDE [Concomitant]
     Active Substance: PSEUDOEPHEDRINE HYDROCHLORIDE
     Indication: Product used for unknown indication
  813. PSEUDOEPHEDRINE HYDROCHLORIDE [Concomitant]
     Active Substance: PSEUDOEPHEDRINE HYDROCHLORIDE
  814. PSEUDOEPHEDRINE HYDROCHLORIDE [Concomitant]
     Active Substance: PSEUDOEPHEDRINE HYDROCHLORIDE
  815. DIETARY SUPPLEMENT\MINERALS\VITAMINS [Concomitant]
     Active Substance: DIETARY SUPPLEMENT\MINERALS\VITAMINS
     Indication: Product used for unknown indication
  816. BUTALBITAL AND ACETAMINOPHEN [Concomitant]
     Active Substance: ACETAMINOPHEN\BUTALBITAL
     Indication: Product used for unknown indication
  817. BUTALBITAL AND ACETAMINOPHEN [Concomitant]
     Active Substance: ACETAMINOPHEN\BUTALBITAL
     Route: 048
  818. APREPITANT [Concomitant]
     Active Substance: APREPITANT
     Indication: Product used for unknown indication
  819. OXYCODONE AND ACETAMINOPHEN [Concomitant]
     Active Substance: ACETAMINOPHEN\OXYCODONE HYDROCHLORIDE
     Indication: Product used for unknown indication
  820. OXYCODONE AND ACETAMINOPHEN [Concomitant]
     Active Substance: ACETAMINOPHEN\OXYCODONE HYDROCHLORIDE
  821. TRAMADOL HYDROCHLORIDE AND ACETAMINOPHEN [Concomitant]
     Active Substance: ACETAMINOPHEN\TRAMADOL HYDROCHLORIDE
     Indication: Product used for unknown indication
  822. RINVOQ [Concomitant]
     Active Substance: UPADACITINIB
     Indication: Product used for unknown indication
  823. MAGNESIUM HYDROXIDE [Concomitant]
     Active Substance: MAGNESIUM HYDROXIDE
     Indication: Product used for unknown indication
  824. MAGNESIUM OXIDE [Concomitant]
     Active Substance: MAGNESIUM OXIDE
     Indication: Product used for unknown indication
  825. PREPARATION H HYDROCORTISONE [Concomitant]
     Active Substance: HYDROCORTISONE
     Indication: Product used for unknown indication
  826. APREMILAST [Concomitant]
     Active Substance: APREMILAST
     Indication: Product used for unknown indication
  827. ASACOL [Concomitant]
     Active Substance: MESALAMINE
     Indication: Product used for unknown indication
  828. BORAGE OIL [Concomitant]
     Active Substance: BORAGE OIL
     Indication: Product used for unknown indication
  829. DILTIAZEM [Concomitant]
     Active Substance: DILTIAZEM
     Indication: Product used for unknown indication
  830. EMEND [Concomitant]
     Active Substance: APREPITANT
     Indication: Product used for unknown indication
  831. ENTYVIO [Concomitant]
     Active Substance: VEDOLIZUMAB
     Indication: Product used for unknown indication
  832. TETRACYCLINE HYDROCHLORIDE [Concomitant]
     Active Substance: TETRACYCLINE HYDROCHLORIDE
     Indication: Product used for unknown indication
  833. TYLENOL [Concomitant]
     Active Substance: ACETAMINOPHEN
     Indication: Product used for unknown indication
  834. TYLENOL WITH CODEINE [Concomitant]
     Active Substance: ACETAMINOPHEN\CODEINE PHOSPHATE
     Indication: Product used for unknown indication
  835. ZOPICLONE [Concomitant]
     Active Substance: ZOPICLONE
     Indication: Product used for unknown indication
  836. TUMS [Concomitant]
     Active Substance: CALCIUM CARBONATE
     Indication: Product used for unknown indication
  837. LEFLUNOMIDE [Concomitant]
     Active Substance: LEFLUNOMIDE
     Indication: Rheumatoid arthritis
     Route: 048
  838. LEFLUNOMIDE [Concomitant]
     Active Substance: LEFLUNOMIDE
  839. LEFLUNOMIDE [Concomitant]
     Active Substance: LEFLUNOMIDE
     Route: 048
  840. MYCOPHENOLATE MOFETIL [Concomitant]
     Active Substance: MYCOPHENOLATE MOFETIL
     Indication: Product used for unknown indication
  841. MYCOPHENOLATE MOFETIL [Concomitant]
     Active Substance: MYCOPHENOLATE MOFETIL
  842. OXYCODONE AND ACETAMINOPHEN [Concomitant]
     Active Substance: ACETAMINOPHEN\OXYCODONE HYDROCHLORIDE
     Indication: Product used for unknown indication
  843. OXYCODONE AND ACETAMINOPHEN [Concomitant]
     Active Substance: ACETAMINOPHEN\OXYCODONE HYDROCHLORIDE
  844. SECUKINUMAB [Concomitant]
     Active Substance: SECUKINUMAB
     Indication: Product used for unknown indication
     Route: 042
  845. ERENUMAB [Concomitant]
     Active Substance: ERENUMAB
     Indication: Migraine
  846. METFORMIN HYDROCHLORIDE [Concomitant]
     Active Substance: METFORMIN HYDROCHLORIDE
     Indication: Product used for unknown indication
     Route: 042
  847. METHYLPREDNISOLONE ACETATE [Concomitant]
     Active Substance: METHYLPREDNISOLONE ACETATE
     Indication: Product used for unknown indication
  848. CALCIUM\CHOLECALCIFEROL\MAGNESIUM [Concomitant]
     Active Substance: CALCIUM\CHOLECALCIFEROL\MAGNESIUM
     Indication: Product used for unknown indication
  849. CETIRIZINE HYDROCHLORIDE AND PSEUDOEPHEDRINE HYDROCHLORIDE [Concomitant]
     Active Substance: CETIRIZINE HYDROCHLORIDE\PSEUDOEPHEDRINE HYDROCHLORIDE
     Indication: Product used for unknown indication
  850. PYRIDOXINE HYDROCHLORIDE [Concomitant]
     Active Substance: PYRIDOXINE HYDROCHLORIDE
     Indication: Product used for unknown indication
  851. CETIRIZINE HYDROCHLORIDE [Concomitant]
     Active Substance: CETIRIZINE HYDROCHLORIDE
     Indication: Product used for unknown indication
  852. CETIRIZINE HYDROCHLORIDE [Concomitant]
     Active Substance: CETIRIZINE HYDROCHLORIDE
  853. STRATTERA [Concomitant]
     Active Substance: ATOMOXETINE HYDROCHLORIDE
     Indication: Migraine
  854. STRATTERA [Concomitant]
     Active Substance: ATOMOXETINE HYDROCHLORIDE
  855. CHOLECALCIFEROL [Concomitant]
     Active Substance: CHOLECALCIFEROL
     Indication: Product used for unknown indication
  856. VITAMINS NOS [Concomitant]
     Active Substance: VITAMINS
     Indication: Product used for unknown indication
  857. VITAMINS NOS [Concomitant]
     Active Substance: VITAMINS
  858. VITAMINS NOS [Concomitant]
     Active Substance: VITAMINS
  859. DICLOFENAC POTASSIUM [Concomitant]
     Active Substance: DICLOFENAC POTASSIUM
     Indication: Product used for unknown indication

REACTIONS (1)
  - Death [Fatal]
